FAERS Safety Report 22946380 (Version 12)
Quarter: 2025Q2

REPORT INFORMATION
  Report Type: Spontaneous
  Country: GB (occurrence: GB)
  Receive Date: 20230915
  Receipt Date: 20250616
  Transmission Date: 20250716
  Serious: Yes (Death, Hospitalization, Other)
  Sender: JOHNSON AND JOHNSON
  Company Number: GB-AMGEN-GBRSP2022132353

PATIENT
  Age: 59 Year
  Sex: Male
  Weight: 62 kg

DRUGS (1319)
  1. HALOPERIDOL [Suspect]
     Active Substance: HALOPERIDOL
     Indication: Schizophrenia
     Route: 048
  2. HALOPERIDOL [Suspect]
     Active Substance: HALOPERIDOL
     Route: 048
  3. HALOPERIDOL [Suspect]
     Active Substance: HALOPERIDOL
     Route: 048
  4. HALOPERIDOL [Suspect]
     Active Substance: HALOPERIDOL
     Route: 048
  5. HALOPERIDOL [Suspect]
     Active Substance: HALOPERIDOL
     Route: 048
  6. HALOPERIDOL [Suspect]
     Active Substance: HALOPERIDOL
     Route: 048
  7. HALOPERIDOL [Suspect]
     Active Substance: HALOPERIDOL
     Route: 048
  8. HALOPERIDOL [Suspect]
     Active Substance: HALOPERIDOL
     Route: 048
  9. HALOPERIDOL [Suspect]
     Active Substance: HALOPERIDOL
     Route: 048
  10. HALOPERIDOL [Suspect]
     Active Substance: HALOPERIDOL
     Route: 048
  11. HALOPERIDOL [Suspect]
     Active Substance: HALOPERIDOL
     Route: 048
  12. HALOPERIDOL [Suspect]
     Active Substance: HALOPERIDOL
  13. HALOPERIDOL [Suspect]
     Active Substance: HALOPERIDOL
     Route: 048
  14. HALOPERIDOL [Suspect]
     Active Substance: HALOPERIDOL
  15. HALOPERIDOL [Suspect]
     Active Substance: HALOPERIDOL
     Route: 048
  16. HALOPERIDOL [Suspect]
     Active Substance: HALOPERIDOL
     Route: 048
  17. HALOPERIDOL [Suspect]
     Active Substance: HALOPERIDOL
  18. HALOPERIDOL [Suspect]
     Active Substance: HALOPERIDOL
     Route: 048
  19. HALOPERIDOL [Suspect]
     Active Substance: HALOPERIDOL
     Route: 048
  20. HALOPERIDOL [Suspect]
     Active Substance: HALOPERIDOL
     Route: 048
  21. HALOPERIDOL [Suspect]
     Active Substance: HALOPERIDOL
     Route: 048
  22. HALOPERIDOL [Suspect]
     Active Substance: HALOPERIDOL
     Route: 048
  23. HALOPERIDOL [Suspect]
     Active Substance: HALOPERIDOL
     Route: 048
  24. HALOPERIDOL [Suspect]
     Active Substance: HALOPERIDOL
     Route: 048
  25. HALOPERIDOL [Suspect]
     Active Substance: HALOPERIDOL
     Route: 048
  26. HALOPERIDOL [Suspect]
     Active Substance: HALOPERIDOL
     Route: 048
  27. HALOPERIDOL [Suspect]
     Active Substance: HALOPERIDOL
     Route: 048
  28. HALOPERIDOL [Suspect]
     Active Substance: HALOPERIDOL
  29. HALOPERIDOL [Suspect]
     Active Substance: HALOPERIDOL
     Route: 048
  30. HALOPERIDOL [Suspect]
     Active Substance: HALOPERIDOL
     Route: 048
  31. HALOPERIDOL [Suspect]
     Active Substance: HALOPERIDOL
     Route: 048
  32. HALOPERIDOL [Suspect]
     Active Substance: HALOPERIDOL
     Route: 048
  33. HALOPERIDOL [Suspect]
     Active Substance: HALOPERIDOL
     Route: 048
  34. HALOPERIDOL [Suspect]
     Active Substance: HALOPERIDOL
  35. HALOPERIDOL [Suspect]
     Active Substance: HALOPERIDOL
  36. HALOPERIDOL [Suspect]
     Active Substance: HALOPERIDOL
     Route: 048
  37. HALOPERIDOL [Suspect]
     Active Substance: HALOPERIDOL
     Route: 048
  38. HALOPERIDOL [Suspect]
     Active Substance: HALOPERIDOL
  39. HALOPERIDOL [Suspect]
     Active Substance: HALOPERIDOL
  40. HALOPERIDOL [Suspect]
     Active Substance: HALOPERIDOL
     Route: 048
  41. HALOPERIDOL [Suspect]
     Active Substance: HALOPERIDOL
     Route: 048
  42. HALOPERIDOL [Suspect]
     Active Substance: HALOPERIDOL
     Route: 048
  43. HALOPERIDOL [Suspect]
     Active Substance: HALOPERIDOL
     Route: 048
  44. HALOPERIDOL [Suspect]
     Active Substance: HALOPERIDOL
     Route: 048
  45. HALOPERIDOL [Suspect]
     Active Substance: HALOPERIDOL
     Route: 048
  46. HALOPERIDOL [Suspect]
     Active Substance: HALOPERIDOL
     Route: 048
  47. HALOPERIDOL [Suspect]
     Active Substance: HALOPERIDOL
     Route: 048
  48. HALOPERIDOL [Suspect]
     Active Substance: HALOPERIDOL
     Route: 048
  49. HALOPERIDOL [Suspect]
     Active Substance: HALOPERIDOL
     Route: 048
  50. HALOPERIDOL [Suspect]
     Active Substance: HALOPERIDOL
     Route: 048
  51. HALOPERIDOL [Suspect]
     Active Substance: HALOPERIDOL
     Route: 048
  52. HALOPERIDOL [Suspect]
     Active Substance: HALOPERIDOL
     Route: 048
  53. HALOPERIDOL [Suspect]
     Active Substance: HALOPERIDOL
     Route: 048
  54. HALOPERIDOL [Suspect]
     Active Substance: HALOPERIDOL
     Route: 048
  55. HALOPERIDOL [Suspect]
     Active Substance: HALOPERIDOL
     Route: 048
  56. HALOPERIDOL [Suspect]
     Active Substance: HALOPERIDOL
     Route: 048
  57. HALOPERIDOL [Suspect]
     Active Substance: HALOPERIDOL
     Route: 048
  58. HALOPERIDOL [Suspect]
     Active Substance: HALOPERIDOL
     Route: 048
  59. HALOPERIDOL [Suspect]
     Active Substance: HALOPERIDOL
     Route: 048
  60. HALOPERIDOL [Suspect]
     Active Substance: HALOPERIDOL
     Route: 048
  61. HALOPERIDOL [Suspect]
     Active Substance: HALOPERIDOL
     Route: 048
  62. HALOPERIDOL [Suspect]
     Active Substance: HALOPERIDOL
  63. HALOPERIDOL [Suspect]
     Active Substance: HALOPERIDOL
     Route: 048
  64. HALOPERIDOL [Suspect]
     Active Substance: HALOPERIDOL
  65. HALOPERIDOL [Suspect]
     Active Substance: HALOPERIDOL
     Route: 048
  66. HALOPERIDOL [Suspect]
     Active Substance: HALOPERIDOL
     Route: 048
  67. HALOPERIDOL [Suspect]
     Active Substance: HALOPERIDOL
  68. HALOPERIDOL [Suspect]
     Active Substance: HALOPERIDOL
     Route: 048
  69. HALOPERIDOL [Suspect]
     Active Substance: HALOPERIDOL
     Route: 048
  70. HALOPERIDOL [Suspect]
     Active Substance: HALOPERIDOL
     Route: 048
  71. HALOPERIDOL [Suspect]
     Active Substance: HALOPERIDOL
     Route: 048
  72. HALOPERIDOL [Suspect]
     Active Substance: HALOPERIDOL
     Route: 048
  73. HALOPERIDOL [Suspect]
     Active Substance: HALOPERIDOL
     Route: 048
  74. HALOPERIDOL [Suspect]
     Active Substance: HALOPERIDOL
     Route: 048
  75. HALOPERIDOL [Suspect]
     Active Substance: HALOPERIDOL
     Route: 048
  76. HALOPERIDOL [Suspect]
     Active Substance: HALOPERIDOL
     Route: 048
  77. HALOPERIDOL [Suspect]
     Active Substance: HALOPERIDOL
     Route: 048
  78. HALOPERIDOL [Suspect]
     Active Substance: HALOPERIDOL
  79. HALOPERIDOL [Suspect]
     Active Substance: HALOPERIDOL
     Route: 048
  80. HALOPERIDOL [Suspect]
     Active Substance: HALOPERIDOL
     Route: 048
  81. HALOPERIDOL [Suspect]
     Active Substance: HALOPERIDOL
     Route: 048
  82. HALOPERIDOL [Suspect]
     Active Substance: HALOPERIDOL
     Route: 048
  83. HALOPERIDOL [Suspect]
     Active Substance: HALOPERIDOL
     Route: 048
  84. HALOPERIDOL [Suspect]
     Active Substance: HALOPERIDOL
  85. HALOPERIDOL [Suspect]
     Active Substance: HALOPERIDOL
  86. HALOPERIDOL [Suspect]
     Active Substance: HALOPERIDOL
     Route: 048
  87. HALOPERIDOL [Suspect]
     Active Substance: HALOPERIDOL
     Route: 048
  88. HALOPERIDOL [Suspect]
     Active Substance: HALOPERIDOL
  89. HALOPERIDOL [Suspect]
     Active Substance: HALOPERIDOL
  90. HALOPERIDOL [Suspect]
     Active Substance: HALOPERIDOL
     Route: 048
  91. HALOPERIDOL [Suspect]
     Active Substance: HALOPERIDOL
     Route: 048
  92. HALOPERIDOL [Suspect]
     Active Substance: HALOPERIDOL
     Route: 048
  93. HALOPERIDOL [Suspect]
     Active Substance: HALOPERIDOL
     Route: 048
  94. HALOPERIDOL [Suspect]
     Active Substance: HALOPERIDOL
     Route: 048
  95. HALOPERIDOL [Suspect]
     Active Substance: HALOPERIDOL
     Route: 048
  96. HALOPERIDOL [Suspect]
     Active Substance: HALOPERIDOL
     Route: 048
  97. HALOPERIDOL [Suspect]
     Active Substance: HALOPERIDOL
     Route: 048
  98. HALOPERIDOL [Suspect]
     Active Substance: HALOPERIDOL
     Route: 048
  99. HALOPERIDOL [Suspect]
     Active Substance: HALOPERIDOL
     Route: 048
  100. HALOPERIDOL [Suspect]
     Active Substance: HALOPERIDOL
     Route: 048
  101. HALOPERIDOL [Suspect]
     Active Substance: HALOPERIDOL
     Dosage: 40 MILLIGRAM, QD
     Route: 048
  102. HALOPERIDOL [Suspect]
     Active Substance: HALOPERIDOL
     Dosage: 20 MILLIGRAM, QD
     Route: 048
  103. HALOPERIDOL [Suspect]
     Active Substance: HALOPERIDOL
     Dosage: 10 MILLIGRAM, QD
     Route: 048
  104. HALOPERIDOL [Suspect]
     Active Substance: HALOPERIDOL
     Dosage: 20 MILLIGRAM, Q12H
     Route: 048
  105. HALOPERIDOL [Suspect]
     Active Substance: HALOPERIDOL
     Dosage: 20 MILLIGRAM, BID
     Route: 048
  106. HALOPERIDOL [Suspect]
     Active Substance: HALOPERIDOL
     Route: 048
  107. HALOPERIDOL [Suspect]
     Active Substance: HALOPERIDOL
     Route: 048
  108. HALOPERIDOL [Suspect]
     Active Substance: HALOPERIDOL
     Route: 048
  109. HALOPERIDOL [Suspect]
     Active Substance: HALOPERIDOL
     Route: 048
  110. HALOPERIDOL [Suspect]
     Active Substance: HALOPERIDOL
     Route: 048
  111. HALOPERIDOL [Suspect]
     Active Substance: HALOPERIDOL
     Route: 048
  112. HALOPERIDOL [Suspect]
     Active Substance: HALOPERIDOL
     Route: 048
  113. HALOPERIDOL [Suspect]
     Active Substance: HALOPERIDOL
     Route: 048
  114. HALOPERIDOL [Suspect]
     Active Substance: HALOPERIDOL
     Route: 048
  115. HALOPERIDOL [Suspect]
     Active Substance: HALOPERIDOL
     Route: 048
  116. HALOPERIDOL [Suspect]
     Active Substance: HALOPERIDOL
     Route: 048
  117. HALOPERIDOL [Suspect]
     Active Substance: HALOPERIDOL
  118. HALOPERIDOL [Suspect]
     Active Substance: HALOPERIDOL
     Route: 048
  119. HALOPERIDOL [Suspect]
     Active Substance: HALOPERIDOL
  120. HALOPERIDOL [Suspect]
     Active Substance: HALOPERIDOL
     Route: 048
  121. HALOPERIDOL [Suspect]
     Active Substance: HALOPERIDOL
     Route: 048
  122. HALOPERIDOL [Suspect]
     Active Substance: HALOPERIDOL
  123. HALOPERIDOL [Suspect]
     Active Substance: HALOPERIDOL
     Route: 048
  124. HALOPERIDOL [Suspect]
     Active Substance: HALOPERIDOL
     Route: 048
  125. HALOPERIDOL [Suspect]
     Active Substance: HALOPERIDOL
     Route: 048
  126. HALOPERIDOL [Suspect]
     Active Substance: HALOPERIDOL
     Route: 048
  127. HALOPERIDOL [Suspect]
     Active Substance: HALOPERIDOL
     Route: 048
  128. HALOPERIDOL [Suspect]
     Active Substance: HALOPERIDOL
     Route: 048
  129. HALOPERIDOL [Suspect]
     Active Substance: HALOPERIDOL
     Route: 048
  130. HALOPERIDOL [Suspect]
     Active Substance: HALOPERIDOL
     Route: 048
  131. HALOPERIDOL [Suspect]
     Active Substance: HALOPERIDOL
     Route: 048
  132. HALOPERIDOL [Suspect]
     Active Substance: HALOPERIDOL
     Route: 048
  133. HALOPERIDOL [Suspect]
     Active Substance: HALOPERIDOL
  134. HALOPERIDOL [Suspect]
     Active Substance: HALOPERIDOL
     Route: 048
  135. HALOPERIDOL [Suspect]
     Active Substance: HALOPERIDOL
     Route: 048
  136. HALOPERIDOL [Suspect]
     Active Substance: HALOPERIDOL
     Route: 048
  137. HALOPERIDOL [Suspect]
     Active Substance: HALOPERIDOL
     Route: 048
  138. HALOPERIDOL [Suspect]
     Active Substance: HALOPERIDOL
     Route: 048
  139. HALOPERIDOL [Suspect]
     Active Substance: HALOPERIDOL
  140. HALOPERIDOL [Suspect]
     Active Substance: HALOPERIDOL
  141. HALOPERIDOL [Suspect]
     Active Substance: HALOPERIDOL
     Route: 048
  142. HALOPERIDOL [Suspect]
     Active Substance: HALOPERIDOL
     Route: 048
  143. HALOPERIDOL [Suspect]
     Active Substance: HALOPERIDOL
  144. HALOPERIDOL [Suspect]
     Active Substance: HALOPERIDOL
  145. HALOPERIDOL [Suspect]
     Active Substance: HALOPERIDOL
     Route: 048
  146. HALOPERIDOL [Suspect]
     Active Substance: HALOPERIDOL
     Route: 048
  147. HALOPERIDOL [Suspect]
     Active Substance: HALOPERIDOL
     Route: 048
  148. HALOPERIDOL [Suspect]
     Active Substance: HALOPERIDOL
     Route: 048
  149. HALOPERIDOL [Suspect]
     Active Substance: HALOPERIDOL
     Route: 048
  150. HALOPERIDOL [Suspect]
     Active Substance: HALOPERIDOL
     Route: 048
  151. HALOPERIDOL [Suspect]
     Active Substance: HALOPERIDOL
     Route: 048
  152. HALOPERIDOL [Suspect]
     Active Substance: HALOPERIDOL
     Route: 048
  153. HALOPERIDOL [Suspect]
     Active Substance: HALOPERIDOL
     Route: 048
  154. HALOPERIDOL [Suspect]
     Active Substance: HALOPERIDOL
     Route: 048
  155. HALOPERIDOL [Suspect]
     Active Substance: HALOPERIDOL
     Route: 048
  156. TRASTUZUMAB [Suspect]
     Active Substance: TRASTUZUMAB
     Indication: Breast cancer metastatic
  157. TRASTUZUMAB [Suspect]
     Active Substance: TRASTUZUMAB
     Dosage: 609 MG, 2/W, (CUMULATIVE DOSE OF FIRST REACTION: 5575.25 MG)
     Route: 042
     Dates: start: 20150930
  158. TRASTUZUMAB [Suspect]
     Active Substance: TRASTUZUMAB
     Dosage: 609 MG, Q3W (1799.20 MG), (CUMULATIVE DOSE TO FIRST REACTION: 929.2083 MG)
     Route: 042
     Dates: start: 20150930
  159. TRASTUZUMAB [Suspect]
     Active Substance: TRASTUZUMAB
     Dosage: 609 MG, BIW (1799.20 MG) [ CUMULATIVE DOSE TO FIRST REACTION: 1393.8125 MG]
     Route: 042
     Dates: start: 20150930
  160. TRASTUZUMAB [Suspect]
     Active Substance: TRASTUZUMAB
     Dosage: 609 MILLIGRAM, Q3W (1799.20 MG)/30-SEP-2015/ 609 MILLIGRAM, Q2WK (ADDITIONAL INFORMATION ON DRUG (FR
     Route: 042
     Dates: start: 20150930
  161. TRASTUZUMAB [Suspect]
     Active Substance: TRASTUZUMAB
     Dosage: 1218 MILLIGRAM, QWK (609MG, 2/W)
     Route: 042
     Dates: start: 20150930
  162. TRASTUZUMAB [Suspect]
     Active Substance: TRASTUZUMAB
     Dosage: 609 MG, EVERY 3 WEEKS (CUMULATIVE DOSE FORM: 1799.20 MG)
     Route: 042
     Dates: start: 20150930
  163. TRASTUZUMAB [Suspect]
     Active Substance: TRASTUZUMAB
     Dosage: 1218 MG
     Dates: start: 20151130
  164. TRASTUZUMAB [Suspect]
     Active Substance: TRASTUZUMAB
  165. TRASTUZUMAB [Suspect]
     Active Substance: TRASTUZUMAB
     Dosage: 1218 MILLIGRAM, QWK (206893.25 MG)
     Route: 042
     Dates: start: 20150930
  166. TRASTUZUMAB [Suspect]
     Active Substance: TRASTUZUMAB
     Dosage: 609 MILLIGRAM, 1799.20 MG)
     Dates: start: 20150930
  167. TRASTUZUMAB [Suspect]
     Active Substance: TRASTUZUMAB
     Dosage: 1218 MG, QWK (CUMULATIVE DOSE:5575.25 MG), (ADDITIONAL INFORMATION ON DRUG (FREE TEXT): CLOZARIL ADD
     Route: 042
     Dates: start: 20150930
  168. TRASTUZUMAB [Suspect]
     Active Substance: TRASTUZUMAB
     Dosage: 420 MG, Q3W (CUMULATIVE DOSE: 820.83 MG) (ADDITIONAL INFORMATION ON DRUG (FREE TEXT): CLOZARIL, ADDI
     Route: 042
     Dates: start: 20150930
  169. TRASTUZUMAB [Suspect]
     Active Substance: TRASTUZUMAB
  170. TRASTUZUMAB [Suspect]
     Active Substance: TRASTUZUMAB
     Dates: start: 20150930
  171. TRASTUZUMAB [Suspect]
     Active Substance: TRASTUZUMAB
     Dosage: 609 MG, 2/W
     Route: 042
     Dates: start: 20150930
  172. TRASTUZUMAB [Suspect]
     Active Substance: TRASTUZUMAB
  173. TRASTUZUMAB [Suspect]
     Active Substance: TRASTUZUMAB
     Dosage: 1218 MG, CUMULATIVE DOSE (10795.25 MG)
     Dates: start: 20150930
  174. TRASTUZUMAB [Suspect]
     Active Substance: TRASTUZUMAB
     Dosage: 609 MG, 2/W
     Route: 042
     Dates: start: 20150930
  175. TRASTUZUMAB [Suspect]
     Active Substance: TRASTUZUMAB
     Dates: start: 20150930
  176. TRASTUZUMAB [Suspect]
     Active Substance: TRASTUZUMAB
     Dosage: 609 MILLIGRAM, Q3WK (1799.20 MG)
     Dates: start: 20150930
  177. TRASTUZUMAB [Suspect]
     Active Substance: TRASTUZUMAB
  178. TRASTUZUMAB [Suspect]
     Active Substance: TRASTUZUMAB
  179. TRASTUZUMAB [Suspect]
     Active Substance: TRASTUZUMAB
     Dosage: 1827 MG, QWK (CUMULATIVE DOSE TO FIRST REACTION: 8362.875 MG), (ADDITIONAL INFORMATION ON DRUG (FREE
     Dates: start: 20150930
  180. TRASTUZUMAB [Suspect]
     Active Substance: TRASTUZUMAB
     Dosage: 609 MILLIGRAM, Q3WK (CUMULATIVE DOSE TO FIRST REACTION: 929.2083 MG), (ADDITIONAL INFORMATION ON DRU
     Dates: start: 20150930
  181. TRASTUZUMAB [Suspect]
     Active Substance: TRASTUZUMAB
     Dosage: 1218 MILLIGRAM, WEEKLY
     Route: 042
     Dates: start: 20150930
  182. TRASTUZUMAB [Suspect]
     Active Substance: TRASTUZUMAB
     Dosage: 609 MILLIGRAM, Q2WK (CUMULATIVE DOSE TO FIRST REACTION: 1393.8125 MG), (ADDITIONAL INFORMATION ON DR
     Route: 042
     Dates: start: 20150930
  183. TRASTUZUMAB [Suspect]
     Active Substance: TRASTUZUMAB
     Dosage: 609 MILLIGRAM, Q2WK (ADDITIONAL INFORMATION ON DRUG (FREE TEXT): CLOZARIL ADDITIONAL INFO: OFF LABEL
     Route: 042
     Dates: start: 20150930
  184. TRASTUZUMAB [Suspect]
     Active Substance: TRASTUZUMAB
     Dates: start: 20150930
  185. TRASTUZUMAB [Suspect]
     Active Substance: TRASTUZUMAB
     Dates: start: 20151130
  186. TRASTUZUMAB [Suspect]
     Active Substance: TRASTUZUMAB
     Dosage: 1218 MILLIGRAM, QWK (ADDITIONAL INFORMATION ON DRUG (FREE TEXT): CLOZARIL ADDITIONAL INFO: OFF LABEL
     Dates: start: 20150930
  187. TRASTUZUMAB [Suspect]
     Active Substance: TRASTUZUMAB
     Dosage: 1827 MILLIGRAM, QWK (ADDITIONAL INFORMATION ON DRUG (FREE TEXT): CLOZARIL ADDITIONAL INFO: OFF LABEL
     Dates: start: 20150930
  188. TRASTUZUMAB [Suspect]
     Active Substance: TRASTUZUMAB
     Dates: start: 20150930
  189. TRASTUZUMAB [Suspect]
     Active Substance: TRASTUZUMAB
  190. TRASTUZUMAB [Suspect]
     Active Substance: TRASTUZUMAB
     Dosage: 1218 MILLIGRAM, QWK (ADDITIONAL INFORMATION ON DRUG (FREE TEXT): CLOZARIL ADDITIONAL INFO: OFF LABEL
     Route: 042
     Dates: start: 20150930
  191. TRASTUZUMAB [Suspect]
     Active Substance: TRASTUZUMAB
     Route: 042
     Dates: start: 20150930
  192. TRASTUZUMAB [Suspect]
     Active Substance: TRASTUZUMAB
     Dates: start: 20150930
  193. TRASTUZUMAB [Suspect]
     Active Substance: TRASTUZUMAB
     Dosage: 609 MG, 2/W
     Dates: start: 20150930
  194. TRASTUZUMAB [Suspect]
     Active Substance: TRASTUZUMAB
     Dosage: 609 MG, BIW (1799.20 MG) (CUMULATIVE DOSE TO FIRST REACTION: 2742.3125 MG)
     Route: 042
     Dates: start: 20150930
  195. TRASTUZUMAB [Suspect]
     Active Substance: TRASTUZUMAB
     Dosage: 1827 MILLIGRAM
     Dates: start: 20150930
  196. TRASTUZUMAB [Suspect]
     Active Substance: TRASTUZUMAB
     Dosage: 1218 MILLIGRAM
     Dates: start: 20150930
  197. TRASTUZUMAB [Suspect]
     Active Substance: TRASTUZUMAB
     Dosage: 1218 MG, QWK (CUMULATIVE DOSE:5575.25 MG), (ADDITIONAL INFORMATION ON DRUG (FREE TEXT): CLOZARIL ADD
     Dates: start: 20150930
  198. TRASTUZUMAB [Suspect]
     Active Substance: TRASTUZUMAB
     Dosage: 1827 MILLIGRAM, QWK
     Dates: start: 20150930
  199. TRASTUZUMAB [Suspect]
     Active Substance: TRASTUZUMAB
     Dates: start: 20150930
  200. TRASTUZUMAB [Suspect]
     Active Substance: TRASTUZUMAB
     Route: 042
     Dates: start: 20150930
  201. TRASTUZUMAB [Suspect]
     Active Substance: TRASTUZUMAB
     Dates: start: 20151130
  202. TRASTUZUMAB [Suspect]
     Active Substance: TRASTUZUMAB
  203. TRASTUZUMAB [Suspect]
     Active Substance: TRASTUZUMAB
     Dates: start: 20150930
  204. TRASTUZUMAB [Suspect]
     Active Substance: TRASTUZUMAB
     Dosage: 1218 MG (CUMULATIVE DOSE: 8362.875 MG)/1218 MILLIGRAM, QWK
     Dates: start: 20150930
  205. TRASTUZUMAB [Suspect]
     Active Substance: TRASTUZUMAB
  206. TRASTUZUMAB [Suspect]
     Active Substance: TRASTUZUMAB
  207. TRASTUZUMAB [Suspect]
     Active Substance: TRASTUZUMAB
  208. TRASTUZUMAB [Suspect]
     Active Substance: TRASTUZUMAB
  209. TRASTUZUMAB [Suspect]
     Active Substance: TRASTUZUMAB
  210. TRASTUZUMAB [Suspect]
     Active Substance: TRASTUZUMAB
  211. TRASTUZUMAB [Suspect]
     Active Substance: TRASTUZUMAB
  212. TRASTUZUMAB [Suspect]
     Active Substance: TRASTUZUMAB
  213. TRASTUZUMAB [Suspect]
     Active Substance: TRASTUZUMAB
  214. TRASTUZUMAB [Suspect]
     Active Substance: TRASTUZUMAB
  215. TRASTUZUMAB [Suspect]
     Active Substance: TRASTUZUMAB
     Dosage: 609 MILLIGRAM, Q3WK (CUMULATIVE DOSE: 820.83)
     Route: 065
  216. TRASTUZUMAB [Suspect]
     Active Substance: TRASTUZUMAB
     Dosage: 420 MILLIGRAM, Q3WK (CUMULATIVE DOSE: 8362.875 MG)
     Route: 065
  217. TRASTUZUMAB [Suspect]
     Active Substance: TRASTUZUMAB
     Dosage: 840 MILLIGRAM, Q3WK (CUMULATIVE DOSE: 8362.875 MG)
     Route: 065
  218. TRASTUZUMAB [Suspect]
     Active Substance: TRASTUZUMAB
     Route: 042
     Dates: start: 20230930
  219. TRASTUZUMAB [Suspect]
     Active Substance: TRASTUZUMAB
     Dosage: 609 MILLIGRAM, Q3WK ((ADDITIONAL INFORMATION ON DRUG (FREE TEXT): CLOZARIL ADDITIONAL INFO: OFF LABE
     Route: 065
  220. TRASTUZUMAB [Suspect]
     Active Substance: TRASTUZUMAB
     Dosage: 840 MILLIGRAM, Q3WK (CUMULATIVE DOSE TO FIRST REACTION: 8362.875 MG, ADDITIONAL INFORMATION ON DRUG
     Route: 065
  221. TRASTUZUMAB [Suspect]
     Active Substance: TRASTUZUMAB
     Dosage: 420 MILLIGRAM, Q3WK (CUMULATIVE DOSE TO FIRST REACTION: 8362.875 MG, ADDITIONAL INFORMATION ON DRUG
     Route: 065
  222. TRASTUZUMAB [Suspect]
     Active Substance: TRASTUZUMAB
     Dosage: 420 MILLIGRAM, Q3WK (ADDITIONAL INFORMATION ON DRUG (FREE TEXT): CLOZARIL ADDITIONAL INFO: OFF LABEL
     Route: 065
  223. TRASTUZUMAB [Suspect]
     Active Substance: TRASTUZUMAB
     Route: 065
  224. TRASTUZUMAB [Suspect]
     Active Substance: TRASTUZUMAB
     Dosage: 420 MG, Q3W (CUMULATIVE DOSE: 820.83 MG)
     Route: 065
  225. TRASTUZUMAB [Suspect]
     Active Substance: TRASTUZUMAB
     Dosage: 840 MILLIGRAM, Q3WK (CUMULATIVE DOSE: 2481.6667
     Route: 065
  226. TRASTUZUMAB [Suspect]
     Active Substance: TRASTUZUMAB
     Dosage: 420 MILLIGRAM, Q3WK
     Route: 065
  227. TRASTUZUMAB [Suspect]
     Active Substance: TRASTUZUMAB
     Dosage: 840 MILLIGRAM, Q3WK
     Route: 065
  228. TRASTUZUMAB [Suspect]
     Active Substance: TRASTUZUMAB
  229. TRASTUZUMAB [Suspect]
     Active Substance: TRASTUZUMAB
  230. TRASTUZUMAB [Suspect]
     Active Substance: TRASTUZUMAB
  231. TRASTUZUMAB [Suspect]
     Active Substance: TRASTUZUMAB
  232. TRASTUZUMAB [Suspect]
     Active Substance: TRASTUZUMAB
  233. TRASTUZUMAB [Suspect]
     Active Substance: TRASTUZUMAB
  234. TRASTUZUMAB [Suspect]
     Active Substance: TRASTUZUMAB
  235. TRASTUZUMAB [Suspect]
     Active Substance: TRASTUZUMAB
  236. TRASTUZUMAB [Suspect]
     Active Substance: TRASTUZUMAB
  237. LORAZEPAM [Suspect]
     Active Substance: LORAZEPAM
     Indication: Schizophrenia
     Route: 048
  238. LORAZEPAM [Suspect]
     Active Substance: LORAZEPAM
     Indication: Schizophrenia
     Route: 048
  239. LORAZEPAM [Suspect]
     Active Substance: LORAZEPAM
     Indication: Schizophrenia
     Route: 048
  240. LORAZEPAM [Suspect]
     Active Substance: LORAZEPAM
     Route: 048
  241. LORAZEPAM [Suspect]
     Active Substance: LORAZEPAM
     Route: 048
  242. LORAZEPAM [Suspect]
     Active Substance: LORAZEPAM
     Route: 048
  243. LORAZEPAM [Suspect]
     Active Substance: LORAZEPAM
     Route: 048
  244. LORAZEPAM [Suspect]
     Active Substance: LORAZEPAM
     Route: 048
  245. LORAZEPAM [Suspect]
     Active Substance: LORAZEPAM
     Route: 048
  246. LORAZEPAM [Suspect]
     Active Substance: LORAZEPAM
     Route: 048
  247. LORAZEPAM [Suspect]
     Active Substance: LORAZEPAM
  248. LORAZEPAM [Suspect]
     Active Substance: LORAZEPAM
     Route: 048
  249. LORAZEPAM [Suspect]
     Active Substance: LORAZEPAM
     Route: 048
  250. LORAZEPAM [Suspect]
     Active Substance: LORAZEPAM
  251. LORAZEPAM [Suspect]
     Active Substance: LORAZEPAM
     Route: 048
  252. LORAZEPAM [Suspect]
     Active Substance: LORAZEPAM
  253. LORAZEPAM [Suspect]
     Active Substance: LORAZEPAM
     Route: 048
  254. LORAZEPAM [Suspect]
     Active Substance: LORAZEPAM
     Route: 048
  255. LORAZEPAM [Suspect]
     Active Substance: LORAZEPAM
     Route: 048
  256. LORAZEPAM [Suspect]
     Active Substance: LORAZEPAM
     Route: 048
  257. LORAZEPAM [Suspect]
     Active Substance: LORAZEPAM
     Route: 048
  258. LORAZEPAM [Suspect]
     Active Substance: LORAZEPAM
     Route: 048
  259. LORAZEPAM [Suspect]
     Active Substance: LORAZEPAM
     Route: 048
  260. LORAZEPAM [Suspect]
     Active Substance: LORAZEPAM
     Route: 048
  261. LORAZEPAM [Suspect]
     Active Substance: LORAZEPAM
     Route: 048
  262. LORAZEPAM [Suspect]
     Active Substance: LORAZEPAM
  263. LORAZEPAM [Suspect]
     Active Substance: LORAZEPAM
     Route: 048
  264. LORAZEPAM [Suspect]
     Active Substance: LORAZEPAM
     Route: 048
  265. LORAZEPAM [Suspect]
     Active Substance: LORAZEPAM
     Route: 048
  266. LORAZEPAM [Suspect]
     Active Substance: LORAZEPAM
     Route: 048
  267. LORAZEPAM [Suspect]
     Active Substance: LORAZEPAM
     Route: 048
  268. LORAZEPAM [Suspect]
     Active Substance: LORAZEPAM
     Route: 048
  269. LORAZEPAM [Suspect]
     Active Substance: LORAZEPAM
     Route: 048
  270. LORAZEPAM [Suspect]
     Active Substance: LORAZEPAM
     Route: 048
  271. LORAZEPAM [Suspect]
     Active Substance: LORAZEPAM
     Route: 048
  272. LORAZEPAM [Suspect]
     Active Substance: LORAZEPAM
     Route: 048
  273. LORAZEPAM [Suspect]
     Active Substance: LORAZEPAM
  274. LORAZEPAM [Suspect]
     Active Substance: LORAZEPAM
     Route: 048
  275. LORAZEPAM [Suspect]
     Active Substance: LORAZEPAM
     Route: 048
  276. LORAZEPAM [Suspect]
     Active Substance: LORAZEPAM
  277. LORAZEPAM [Suspect]
     Active Substance: LORAZEPAM
     Route: 048
  278. LORAZEPAM [Suspect]
     Active Substance: LORAZEPAM
  279. LORAZEPAM [Suspect]
     Active Substance: LORAZEPAM
     Route: 048
  280. LORAZEPAM [Suspect]
     Active Substance: LORAZEPAM
     Route: 048
  281. LORAZEPAM [Suspect]
     Active Substance: LORAZEPAM
     Route: 048
  282. LORAZEPAM [Suspect]
     Active Substance: LORAZEPAM
     Route: 048
  283. LORAZEPAM [Suspect]
     Active Substance: LORAZEPAM
     Route: 048
  284. LORAZEPAM [Suspect]
     Active Substance: LORAZEPAM
     Route: 048
  285. LORAZEPAM [Suspect]
     Active Substance: LORAZEPAM
     Route: 048
  286. LORAZEPAM [Suspect]
     Active Substance: LORAZEPAM
     Route: 048
  287. LORAZEPAM [Suspect]
     Active Substance: LORAZEPAM
     Route: 048
  288. LORAZEPAM [Suspect]
     Active Substance: LORAZEPAM
  289. LORAZEPAM [Suspect]
     Active Substance: LORAZEPAM
     Route: 048
  290. LORAZEPAM [Suspect]
     Active Substance: LORAZEPAM
     Route: 048
  291. LORAZEPAM [Suspect]
     Active Substance: LORAZEPAM
     Route: 048
  292. LORAZEPAM [Suspect]
     Active Substance: LORAZEPAM
     Route: 048
  293. LORAZEPAM [Suspect]
     Active Substance: LORAZEPAM
     Route: 048
  294. LORAZEPAM [Suspect]
     Active Substance: LORAZEPAM
     Route: 048
  295. LORAZEPAM [Suspect]
     Active Substance: LORAZEPAM
     Route: 048
  296. LORAZEPAM [Suspect]
     Active Substance: LORAZEPAM
     Route: 048
  297. LORAZEPAM [Suspect]
     Active Substance: LORAZEPAM
     Route: 048
  298. LORAZEPAM [Suspect]
     Active Substance: LORAZEPAM
     Route: 048
  299. LORAZEPAM [Suspect]
     Active Substance: LORAZEPAM
     Route: 048
  300. LORAZEPAM [Suspect]
     Active Substance: LORAZEPAM
     Route: 048
  301. LORAZEPAM [Suspect]
     Active Substance: LORAZEPAM
     Route: 048
  302. LORAZEPAM [Suspect]
     Active Substance: LORAZEPAM
     Route: 048
  303. LORAZEPAM [Suspect]
     Active Substance: LORAZEPAM
     Route: 048
  304. LORAZEPAM [Suspect]
     Active Substance: LORAZEPAM
     Route: 048
  305. LORAZEPAM [Suspect]
     Active Substance: LORAZEPAM
     Route: 048
  306. LORAZEPAM [Suspect]
     Active Substance: LORAZEPAM
     Route: 048
  307. LORAZEPAM [Suspect]
     Active Substance: LORAZEPAM
     Route: 048
  308. LORAZEPAM [Suspect]
     Active Substance: LORAZEPAM
     Route: 048
  309. LORAZEPAM [Suspect]
     Active Substance: LORAZEPAM
     Route: 048
  310. LORAZEPAM [Suspect]
     Active Substance: LORAZEPAM
     Route: 048
  311. LORAZEPAM [Suspect]
     Active Substance: LORAZEPAM
  312. LORAZEPAM [Suspect]
     Active Substance: LORAZEPAM
     Route: 048
  313. LORAZEPAM [Suspect]
     Active Substance: LORAZEPAM
     Route: 048
  314. LORAZEPAM [Suspect]
     Active Substance: LORAZEPAM
  315. LORAZEPAM [Suspect]
     Active Substance: LORAZEPAM
     Route: 048
  316. LORAZEPAM [Suspect]
     Active Substance: LORAZEPAM
  317. LORAZEPAM [Suspect]
     Active Substance: LORAZEPAM
     Route: 048
  318. LORAZEPAM [Suspect]
     Active Substance: LORAZEPAM
     Route: 048
  319. LORAZEPAM [Suspect]
     Active Substance: LORAZEPAM
     Route: 048
  320. LORAZEPAM [Suspect]
     Active Substance: LORAZEPAM
     Route: 048
  321. LORAZEPAM [Suspect]
     Active Substance: LORAZEPAM
     Route: 048
  322. LORAZEPAM [Suspect]
     Active Substance: LORAZEPAM
     Route: 048
  323. LORAZEPAM [Suspect]
     Active Substance: LORAZEPAM
     Route: 048
  324. LORAZEPAM [Suspect]
     Active Substance: LORAZEPAM
     Route: 048
  325. LORAZEPAM [Suspect]
     Active Substance: LORAZEPAM
     Route: 048
  326. LORAZEPAM [Suspect]
     Active Substance: LORAZEPAM
  327. ARIPIPRAZOLE [Suspect]
     Active Substance: ARIPIPRAZOLE
     Indication: Schizophrenia
     Route: 048
  328. ARIPIPRAZOLE [Suspect]
     Active Substance: ARIPIPRAZOLE
     Indication: Schizophrenia
  329. ARIPIPRAZOLE [Suspect]
     Active Substance: ARIPIPRAZOLE
     Indication: Product used for unknown indication
     Route: 048
  330. ARIPIPRAZOLE [Suspect]
     Active Substance: ARIPIPRAZOLE
     Route: 048
  331. ARIPIPRAZOLE [Suspect]
     Active Substance: ARIPIPRAZOLE
     Route: 048
  332. ARIPIPRAZOLE [Suspect]
     Active Substance: ARIPIPRAZOLE
  333. ARIPIPRAZOLE [Suspect]
     Active Substance: ARIPIPRAZOLE
     Route: 048
  334. ARIPIPRAZOLE [Suspect]
     Active Substance: ARIPIPRAZOLE
     Route: 048
  335. ARIPIPRAZOLE [Suspect]
     Active Substance: ARIPIPRAZOLE
     Route: 048
  336. ARIPIPRAZOLE [Suspect]
     Active Substance: ARIPIPRAZOLE
     Route: 048
  337. ARIPIPRAZOLE [Suspect]
     Active Substance: ARIPIPRAZOLE
     Route: 048
  338. ARIPIPRAZOLE [Suspect]
     Active Substance: ARIPIPRAZOLE
     Route: 048
  339. ARIPIPRAZOLE [Suspect]
     Active Substance: ARIPIPRAZOLE
     Route: 048
  340. ARIPIPRAZOLE [Suspect]
     Active Substance: ARIPIPRAZOLE
     Route: 048
  341. ARIPIPRAZOLE [Suspect]
     Active Substance: ARIPIPRAZOLE
     Route: 048
  342. ARIPIPRAZOLE [Suspect]
     Active Substance: ARIPIPRAZOLE
     Route: 048
  343. ARIPIPRAZOLE [Suspect]
     Active Substance: ARIPIPRAZOLE
     Route: 048
  344. ARIPIPRAZOLE [Suspect]
     Active Substance: ARIPIPRAZOLE
     Route: 048
  345. ARIPIPRAZOLE [Suspect]
     Active Substance: ARIPIPRAZOLE
     Route: 048
  346. ARIPIPRAZOLE [Suspect]
     Active Substance: ARIPIPRAZOLE
  347. ARIPIPRAZOLE [Suspect]
     Active Substance: ARIPIPRAZOLE
     Route: 048
  348. ARIPIPRAZOLE [Suspect]
     Active Substance: ARIPIPRAZOLE
     Route: 048
  349. ARIPIPRAZOLE [Suspect]
     Active Substance: ARIPIPRAZOLE
     Route: 048
  350. ARIPIPRAZOLE [Suspect]
     Active Substance: ARIPIPRAZOLE
  351. ARIPIPRAZOLE [Suspect]
     Active Substance: ARIPIPRAZOLE
     Route: 048
  352. ARIPIPRAZOLE [Suspect]
     Active Substance: ARIPIPRAZOLE
     Route: 048
  353. ARIPIPRAZOLE [Suspect]
     Active Substance: ARIPIPRAZOLE
     Route: 048
  354. ARIPIPRAZOLE [Suspect]
     Active Substance: ARIPIPRAZOLE
     Route: 048
  355. ARIPIPRAZOLE [Suspect]
     Active Substance: ARIPIPRAZOLE
     Route: 048
  356. ARIPIPRAZOLE [Suspect]
     Active Substance: ARIPIPRAZOLE
     Route: 048
  357. ARIPIPRAZOLE [Suspect]
     Active Substance: ARIPIPRAZOLE
     Route: 048
  358. ARIPIPRAZOLE [Suspect]
     Active Substance: ARIPIPRAZOLE
     Route: 048
  359. ARIPIPRAZOLE [Suspect]
     Active Substance: ARIPIPRAZOLE
     Route: 048
  360. ARIPIPRAZOLE [Suspect]
     Active Substance: ARIPIPRAZOLE
     Route: 048
  361. ARIPIPRAZOLE [Suspect]
     Active Substance: ARIPIPRAZOLE
     Route: 048
  362. ARIPIPRAZOLE [Suspect]
     Active Substance: ARIPIPRAZOLE
     Route: 048
  363. ARIPIPRAZOLE [Suspect]
     Active Substance: ARIPIPRAZOLE
     Route: 048
  364. ARIPIPRAZOLE [Suspect]
     Active Substance: ARIPIPRAZOLE
     Route: 065
  365. ARIPIPRAZOLE [Suspect]
     Active Substance: ARIPIPRAZOLE
     Route: 065
  366. ARIPIPRAZOLE [Suspect]
     Active Substance: ARIPIPRAZOLE
     Route: 065
  367. ARIPIPRAZOLE [Suspect]
     Active Substance: ARIPIPRAZOLE
     Route: 065
  368. ARIPIPRAZOLE [Suspect]
     Active Substance: ARIPIPRAZOLE
     Route: 048
  369. ARIPIPRAZOLE [Suspect]
     Active Substance: ARIPIPRAZOLE
     Route: 048
  370. ARIPIPRAZOLE [Suspect]
     Active Substance: ARIPIPRAZOLE
  371. ARIPIPRAZOLE [Suspect]
     Active Substance: ARIPIPRAZOLE
     Route: 048
  372. ARIPIPRAZOLE [Suspect]
     Active Substance: ARIPIPRAZOLE
     Route: 048
  373. ARIPIPRAZOLE [Suspect]
     Active Substance: ARIPIPRAZOLE
     Route: 048
  374. ARIPIPRAZOLE [Suspect]
     Active Substance: ARIPIPRAZOLE
  375. ARIPIPRAZOLE [Suspect]
     Active Substance: ARIPIPRAZOLE
     Route: 048
  376. ARIPIPRAZOLE [Suspect]
     Active Substance: ARIPIPRAZOLE
     Route: 048
  377. ARIPIPRAZOLE [Suspect]
     Active Substance: ARIPIPRAZOLE
     Route: 048
  378. ARIPIPRAZOLE [Suspect]
     Active Substance: ARIPIPRAZOLE
     Route: 048
  379. ARIPIPRAZOLE [Suspect]
     Active Substance: ARIPIPRAZOLE
     Route: 048
  380. ARIPIPRAZOLE [Suspect]
     Active Substance: ARIPIPRAZOLE
     Route: 048
  381. ARIPIPRAZOLE [Suspect]
     Active Substance: ARIPIPRAZOLE
     Route: 048
  382. ARIPIPRAZOLE [Suspect]
     Active Substance: ARIPIPRAZOLE
     Route: 048
  383. ARIPIPRAZOLE [Suspect]
     Active Substance: ARIPIPRAZOLE
     Route: 048
  384. ARIPIPRAZOLE [Suspect]
     Active Substance: ARIPIPRAZOLE
     Route: 048
  385. ARIPIPRAZOLE [Suspect]
     Active Substance: ARIPIPRAZOLE
     Route: 048
  386. ARIPIPRAZOLE [Suspect]
     Active Substance: ARIPIPRAZOLE
     Route: 048
  387. ARIPIPRAZOLE [Suspect]
     Active Substance: ARIPIPRAZOLE
     Indication: Schizophrenia
  388. ARIPIPRAZOLE [Suspect]
     Active Substance: ARIPIPRAZOLE
  389. ARIPIPRAZOLE [Suspect]
     Active Substance: ARIPIPRAZOLE
  390. ARIPIPRAZOLE [Suspect]
     Active Substance: ARIPIPRAZOLE
  391. ARIPIPRAZOLE [Suspect]
     Active Substance: ARIPIPRAZOLE
  392. ARIPIPRAZOLE [Suspect]
     Active Substance: ARIPIPRAZOLE
  393. ARIPIPRAZOLE [Suspect]
     Active Substance: ARIPIPRAZOLE
  394. ARIPIPRAZOLE [Suspect]
     Active Substance: ARIPIPRAZOLE
  395. ARIPIPRAZOLE [Suspect]
     Active Substance: ARIPIPRAZOLE
  396. ARIPIPRAZOLE [Suspect]
     Active Substance: ARIPIPRAZOLE
  397. CHLORPROMAZINE [Suspect]
     Active Substance: CHLORPROMAZINE
     Route: 048
  398. CHLORPROMAZINE [Suspect]
     Active Substance: CHLORPROMAZINE
  399. CHLORPROMAZINE [Suspect]
     Active Substance: CHLORPROMAZINE
     Route: 048
  400. CHLORPROMAZINE [Suspect]
     Active Substance: CHLORPROMAZINE
     Route: 048
  401. CHLORPROMAZINE [Suspect]
     Active Substance: CHLORPROMAZINE
     Route: 048
  402. CHLORPROMAZINE [Suspect]
     Active Substance: CHLORPROMAZINE
     Route: 048
  403. CHLORPROMAZINE [Suspect]
     Active Substance: CHLORPROMAZINE
     Route: 048
  404. CHLORPROMAZINE [Suspect]
     Active Substance: CHLORPROMAZINE
     Route: 048
  405. CHLORPROMAZINE [Suspect]
     Active Substance: CHLORPROMAZINE
  406. CHLORPROMAZINE [Suspect]
     Active Substance: CHLORPROMAZINE
  407. CHLORPROMAZINE [Suspect]
     Active Substance: CHLORPROMAZINE
  408. CHLORPROMAZINE [Suspect]
     Active Substance: CHLORPROMAZINE
     Route: 048
  409. CHLORPROMAZINE [Suspect]
     Active Substance: CHLORPROMAZINE
     Route: 048
  410. CHLORPROMAZINE [Suspect]
     Active Substance: CHLORPROMAZINE
     Route: 048
  411. CHLORPROMAZINE [Suspect]
     Active Substance: CHLORPROMAZINE
     Route: 048
  412. CHLORPROMAZINE [Suspect]
     Active Substance: CHLORPROMAZINE
     Route: 048
  413. CHLORPROMAZINE [Suspect]
     Active Substance: CHLORPROMAZINE
     Route: 048
  414. CHLORPROMAZINE [Suspect]
     Active Substance: CHLORPROMAZINE
     Route: 048
  415. CHLORPROMAZINE [Suspect]
     Active Substance: CHLORPROMAZINE
     Route: 048
  416. CHLORPROMAZINE [Suspect]
     Active Substance: CHLORPROMAZINE
     Route: 048
  417. CHLORPROMAZINE [Suspect]
     Active Substance: CHLORPROMAZINE
     Route: 048
  418. CHLORPROMAZINE [Suspect]
     Active Substance: CHLORPROMAZINE
  419. CHLORPROMAZINE [Suspect]
     Active Substance: CHLORPROMAZINE
  420. CHLORPROMAZINE [Suspect]
     Active Substance: CHLORPROMAZINE
  421. CHLORPROMAZINE [Suspect]
     Active Substance: CHLORPROMAZINE
  422. CHLORPROMAZINE [Suspect]
     Active Substance: CHLORPROMAZINE
  423. CHLORPROMAZINE [Suspect]
     Active Substance: CHLORPROMAZINE
  424. CHLORPROMAZINE [Suspect]
     Active Substance: CHLORPROMAZINE
  425. CHLORPROMAZINE [Suspect]
     Active Substance: CHLORPROMAZINE
  426. CHLORPROMAZINE [Suspect]
     Active Substance: CHLORPROMAZINE
  427. CHLORPROMAZINE [Suspect]
     Active Substance: CHLORPROMAZINE
  428. CHLORPROMAZINE [Suspect]
     Active Substance: CHLORPROMAZINE
  429. CHLORPROMAZINE [Suspect]
     Active Substance: CHLORPROMAZINE
  430. CHLORPROMAZINE [Suspect]
     Active Substance: CHLORPROMAZINE
  431. CHLORPROMAZINE [Suspect]
     Active Substance: CHLORPROMAZINE
  432. CHLORPROMAZINE [Suspect]
     Active Substance: CHLORPROMAZINE
  433. CHLORPROMAZINE [Suspect]
     Active Substance: CHLORPROMAZINE
  434. CHLORPROMAZINE [Suspect]
     Active Substance: CHLORPROMAZINE
  435. CHLORPROMAZINE [Suspect]
     Active Substance: CHLORPROMAZINE
  436. CHLORPROMAZINE [Suspect]
     Active Substance: CHLORPROMAZINE
     Route: 048
  437. CHLORPROMAZINE [Suspect]
     Active Substance: CHLORPROMAZINE
     Route: 048
  438. CHLORPROMAZINE [Suspect]
     Active Substance: CHLORPROMAZINE
     Route: 048
  439. CHLORPROMAZINE [Suspect]
     Active Substance: CHLORPROMAZINE
     Route: 048
  440. CHLORPROMAZINE [Suspect]
     Active Substance: CHLORPROMAZINE
     Route: 048
  441. CHLORPROMAZINE [Suspect]
     Active Substance: CHLORPROMAZINE
     Route: 048
  442. CHLORPROMAZINE [Suspect]
     Active Substance: CHLORPROMAZINE
  443. CHLORPROMAZINE [Suspect]
     Active Substance: CHLORPROMAZINE
  444. CHLORPROMAZINE [Suspect]
     Active Substance: CHLORPROMAZINE
  445. CHLORPROMAZINE [Suspect]
     Active Substance: CHLORPROMAZINE
  446. CHLORPROMAZINE [Suspect]
     Active Substance: CHLORPROMAZINE
  447. CHLORPROMAZINE [Suspect]
     Active Substance: CHLORPROMAZINE
  448. CHLORPROMAZINE [Suspect]
     Active Substance: CHLORPROMAZINE
  449. CHLORPROMAZINE [Suspect]
     Active Substance: CHLORPROMAZINE
  450. CHLORPROMAZINE [Suspect]
     Active Substance: CHLORPROMAZINE
  451. CHLORPROMAZINE [Suspect]
     Active Substance: CHLORPROMAZINE
  452. CHLORPROMAZINE [Suspect]
     Active Substance: CHLORPROMAZINE
  453. CHLORPROMAZINE [Suspect]
     Active Substance: CHLORPROMAZINE
  454. CHLORPROMAZINE [Suspect]
     Active Substance: CHLORPROMAZINE
  455. CHLORPROMAZINE [Suspect]
     Active Substance: CHLORPROMAZINE
  456. CHLORPROMAZINE [Suspect]
     Active Substance: CHLORPROMAZINE
  457. CHLORPROMAZINE [Suspect]
     Active Substance: CHLORPROMAZINE
  458. CHLORPROMAZINE [Suspect]
     Active Substance: CHLORPROMAZINE
  459. CHLORPROMAZINE [Suspect]
     Active Substance: CHLORPROMAZINE
  460. CHLORPROMAZINE [Suspect]
     Active Substance: CHLORPROMAZINE
     Route: 048
  461. CHLORPROMAZINE [Suspect]
     Active Substance: CHLORPROMAZINE
  462. CHLORPROMAZINE [Suspect]
     Active Substance: CHLORPROMAZINE
     Route: 048
  463. CHLORPROMAZINE [Suspect]
     Active Substance: CHLORPROMAZINE
     Route: 048
  464. CHLORPROMAZINE [Suspect]
     Active Substance: CHLORPROMAZINE
     Route: 048
  465. CHLORPROMAZINE [Suspect]
     Active Substance: CHLORPROMAZINE
     Route: 048
  466. CHLORPROMAZINE [Suspect]
     Active Substance: CHLORPROMAZINE
     Route: 048
  467. CHLORPROMAZINE [Suspect]
     Active Substance: CHLORPROMAZINE
     Route: 048
  468. CHLORPROMAZINE [Suspect]
     Active Substance: CHLORPROMAZINE
  469. CHLORPROMAZINE [Suspect]
     Active Substance: CHLORPROMAZINE
  470. CHLORPROMAZINE [Suspect]
     Active Substance: CHLORPROMAZINE
  471. CHLORPROMAZINE [Suspect]
     Active Substance: CHLORPROMAZINE
     Route: 048
  472. CHLORPROMAZINE [Suspect]
     Active Substance: CHLORPROMAZINE
     Route: 048
  473. CHLORPROMAZINE [Suspect]
     Active Substance: CHLORPROMAZINE
     Route: 048
  474. CHLORPROMAZINE [Suspect]
     Active Substance: CHLORPROMAZINE
     Route: 048
  475. CHLORPROMAZINE [Suspect]
     Active Substance: CHLORPROMAZINE
     Route: 048
  476. CHLORPROMAZINE [Suspect]
     Active Substance: CHLORPROMAZINE
     Route: 048
  477. CHLORPROMAZINE [Suspect]
     Active Substance: CHLORPROMAZINE
     Route: 048
  478. CHLORPROMAZINE [Suspect]
     Active Substance: CHLORPROMAZINE
     Route: 048
  479. CHLORPROMAZINE [Suspect]
     Active Substance: CHLORPROMAZINE
     Route: 048
  480. CHLORPROMAZINE [Suspect]
     Active Substance: CHLORPROMAZINE
     Route: 048
  481. CHLORPROMAZINE [Suspect]
     Active Substance: CHLORPROMAZINE
     Route: 048
  482. CHLORPROMAZINE [Suspect]
     Active Substance: CHLORPROMAZINE
     Route: 048
  483. CHLORPROMAZINE [Suspect]
     Active Substance: CHLORPROMAZINE
     Route: 048
  484. CHLORPROMAZINE [Suspect]
     Active Substance: CHLORPROMAZINE
     Route: 048
  485. CHLORPROMAZINE [Suspect]
     Active Substance: CHLORPROMAZINE
     Route: 048
  486. CHLORPROMAZINE [Suspect]
     Active Substance: CHLORPROMAZINE
  487. CHLORPROMAZINE [Suspect]
     Active Substance: CHLORPROMAZINE
     Route: 048
  488. CHLORPROMAZINE [Suspect]
     Active Substance: CHLORPROMAZINE
     Route: 048
  489. CHLORPROMAZINE [Suspect]
     Active Substance: CHLORPROMAZINE
     Route: 048
  490. CHLORPROMAZINE [Suspect]
     Active Substance: CHLORPROMAZINE
     Route: 048
  491. CHLORPROMAZINE [Suspect]
     Active Substance: CHLORPROMAZINE
     Route: 048
  492. CHLORPROMAZINE [Suspect]
     Active Substance: CHLORPROMAZINE
     Route: 048
  493. CHLORPROMAZINE [Suspect]
     Active Substance: CHLORPROMAZINE
  494. CHLORPROMAZINE [Suspect]
     Active Substance: CHLORPROMAZINE
  495. CHLORPROMAZINE [Suspect]
     Active Substance: CHLORPROMAZINE
  496. CHLORPROMAZINE [Suspect]
     Active Substance: CHLORPROMAZINE
     Route: 048
  497. CHLORPROMAZINE [Suspect]
     Active Substance: CHLORPROMAZINE
     Route: 048
  498. CHLORPROMAZINE [Suspect]
     Active Substance: CHLORPROMAZINE
     Route: 048
  499. CHLORPROMAZINE [Suspect]
     Active Substance: CHLORPROMAZINE
     Route: 048
  500. CHLORPROMAZINE [Suspect]
     Active Substance: CHLORPROMAZINE
     Route: 048
  501. CHLORPROMAZINE [Suspect]
     Active Substance: CHLORPROMAZINE
     Route: 048
  502. CHLORPROMAZINE [Suspect]
     Active Substance: CHLORPROMAZINE
     Route: 048
  503. CHLORPROMAZINE [Suspect]
     Active Substance: CHLORPROMAZINE
     Route: 048
  504. CHLORPROMAZINE [Suspect]
     Active Substance: CHLORPROMAZINE
     Route: 048
  505. CHLORPROMAZINE [Suspect]
     Active Substance: CHLORPROMAZINE
     Route: 048
  506. CHLORPROMAZINE [Suspect]
     Active Substance: CHLORPROMAZINE
  507. CHLORPROMAZINE [Suspect]
     Active Substance: CHLORPROMAZINE
  508. CHLORPROMAZINE [Suspect]
     Active Substance: CHLORPROMAZINE
  509. CHLORPROMAZINE [Suspect]
     Active Substance: CHLORPROMAZINE
  510. CHLORPROMAZINE [Suspect]
     Active Substance: CHLORPROMAZINE
  511. CHLORPROMAZINE [Suspect]
     Active Substance: CHLORPROMAZINE
  512. CHLORPROMAZINE [Suspect]
     Active Substance: CHLORPROMAZINE
  513. CHLORPROMAZINE [Suspect]
     Active Substance: CHLORPROMAZINE
  514. CHLORPROMAZINE [Suspect]
     Active Substance: CHLORPROMAZINE
  515. CHLORPROMAZINE [Suspect]
     Active Substance: CHLORPROMAZINE
  516. CHLORPROMAZINE [Suspect]
     Active Substance: CHLORPROMAZINE
  517. CHLORPROMAZINE [Suspect]
     Active Substance: CHLORPROMAZINE
  518. CHLORPROMAZINE [Suspect]
     Active Substance: CHLORPROMAZINE
  519. CHLORPROMAZINE [Suspect]
     Active Substance: CHLORPROMAZINE
  520. CHLORPROMAZINE [Suspect]
     Active Substance: CHLORPROMAZINE
  521. CHLORPROMAZINE [Suspect]
     Active Substance: CHLORPROMAZINE
  522. CHLORPROMAZINE [Suspect]
     Active Substance: CHLORPROMAZINE
  523. CHLORPROMAZINE [Suspect]
     Active Substance: CHLORPROMAZINE
  524. ZUCLOPENTHIXOL HYDROCHLORIDE [Suspect]
     Active Substance: ZUCLOPENTHIXOL HYDROCHLORIDE
     Indication: Schizophrenia
     Dosage: 300 MG, QW (300 MILLIGRAM I.M WEEKLY), (ADDITIONAL INFORMATION ON DRUG (FREE TEXT): CLOZARIL ADDITIO
     Dates: start: 20091009
  525. ZUCLOPENTHIXOL HYDROCHLORIDE [Suspect]
     Active Substance: ZUCLOPENTHIXOL HYDROCHLORIDE
     Indication: Off label use
  526. ZUCLOPENTHIXOL HYDROCHLORIDE [Suspect]
     Active Substance: ZUCLOPENTHIXOL HYDROCHLORIDE
     Indication: Product used for unknown indication
     Dosage: 800 MILLIGRAM, QWK, (ADDITIONAL INFORMATION ON DRUG (FREE TEXT): CLOZARIL ADDITIONAL INFO: OFF LABEL
     Dates: start: 20040601, end: 20041018
  527. ZUCLOPENTHIXOL HYDROCHLORIDE [Suspect]
     Active Substance: ZUCLOPENTHIXOL HYDROCHLORIDE
     Dates: start: 20040901
  528. ZUCLOPENTHIXOL HYDROCHLORIDE [Suspect]
     Active Substance: ZUCLOPENTHIXOL HYDROCHLORIDE
     Dosage: 400 MILLIGRAM, QWK, (ADDITIONAL INFORMATION ON DRUG (FREE TEXT): CLOZARIL ADDITIONAL INFO: OFF LABEL
     Dates: start: 20040217, end: 20040601
  529. ZUCLOPENTHIXOL HYDROCHLORIDE [Suspect]
     Active Substance: ZUCLOPENTHIXOL HYDROCHLORIDE
     Dosage: 400 MILLIGRAM OTHER (BIWEEKLY)
     Dates: start: 20041018, end: 20041018
  530. ZUCLOPENTHIXOL HYDROCHLORIDE [Suspect]
     Active Substance: ZUCLOPENTHIXOL HYDROCHLORIDE
     Dosage: 300 MILLIGRAM, QWK, (ADDITIONAL INFORMATION ON DRUG (FREE TEXT): CLOZARIL ADDITIONAL INFO: OFF LABEL
     Dates: start: 20091018
  531. ZUCLOPENTHIXOL HYDROCHLORIDE [Suspect]
     Active Substance: ZUCLOPENTHIXOL HYDROCHLORIDE
  532. ZUCLOPENTHIXOL HYDROCHLORIDE [Suspect]
     Active Substance: ZUCLOPENTHIXOL HYDROCHLORIDE
     Dosage: 400 MG, 1/WEEK, (ADDITIONAL INFORMATION ON DRUG (FREE TEXT): CLOZARIL ADDITIONAL INFO: OFF LABEL USE
  533. ZUCLOPENTHIXOL HYDROCHLORIDE [Suspect]
     Active Substance: ZUCLOPENTHIXOL HYDROCHLORIDE
     Dosage: 400 MILLIGRAM, EVERY WEEK
  534. ZUCLOPENTHIXOL HYDROCHLORIDE [Suspect]
     Active Substance: ZUCLOPENTHIXOL HYDROCHLORIDE
  535. ZUCLOPENTHIXOL HYDROCHLORIDE [Suspect]
     Active Substance: ZUCLOPENTHIXOL HYDROCHLORIDE
  536. ZUCLOPENTHIXOL HYDROCHLORIDE [Suspect]
     Active Substance: ZUCLOPENTHIXOL HYDROCHLORIDE
     Dosage: 400 MG, QW2
     Dates: start: 20030204, end: 20040217
  537. ZUCLOPENTHIXOL HYDROCHLORIDE [Suspect]
     Active Substance: ZUCLOPENTHIXOL HYDROCHLORIDE
     Dosage: 800 MILLIGRAM, QWK, (ADDITIONAL INFORMATION ON DRUG (FREE TEXT): CLOZARIL ADDITIONAL INFO: OFF LABEL
     Dates: start: 20030204, end: 20040217
  538. ZUCLOPENTHIXOL HYDROCHLORIDE [Suspect]
     Active Substance: ZUCLOPENTHIXOL HYDROCHLORIDE
     Dosage: 400 MG, CYCLIC (400 MG, BIWEEKLY)
     Dates: start: 20030204, end: 20040217
  539. ZUCLOPENTHIXOL HYDROCHLORIDE [Suspect]
     Active Substance: ZUCLOPENTHIXOL HYDROCHLORIDE
     Dates: start: 20030204, end: 20040217
  540. ZUCLOPENTHIXOL HYDROCHLORIDE [Suspect]
     Active Substance: ZUCLOPENTHIXOL HYDROCHLORIDE
     Dosage: 400 MILLIGRAM, QW
     Dates: start: 20030217, end: 20040601
  541. ZUCLOPENTHIXOL HYDROCHLORIDE [Suspect]
     Active Substance: ZUCLOPENTHIXOL HYDROCHLORIDE
     Dosage: 400 MG, QW, (ADDITIONAL INFORMATION ON DRUG (FREE TEXT): CLOZARIL ADDITIONAL INFO: OFF LABEL USE; CU
     Dates: start: 20040217, end: 20040601
  542. ZUCLOPENTHIXOL HYDROCHLORIDE [Suspect]
     Active Substance: ZUCLOPENTHIXOL HYDROCHLORIDE
     Dosage: 400 MG, CYCLICAL (BIWEEKLY)
     Dates: start: 20040217, end: 20040601
  543. ZUCLOPENTHIXOL HYDROCHLORIDE [Suspect]
     Active Substance: ZUCLOPENTHIXOL HYDROCHLORIDE
     Dosage: 400 MG, WEEKLY (1/W)/40 MILLIGRAM (ADDITIONAL INFORMATION ON DRUG (FREE TEXT): CLOZARIL, ADDITIONAL
     Dates: start: 20040217, end: 20040601
  544. ZUCLOPENTHIXOL HYDROCHLORIDE [Suspect]
     Active Substance: ZUCLOPENTHIXOL HYDROCHLORIDE
     Dosage: 400 MG, QW2
     Dates: start: 20040601, end: 20041018
  545. ZUCLOPENTHIXOL HYDROCHLORIDE [Suspect]
     Active Substance: ZUCLOPENTHIXOL HYDROCHLORIDE
     Dosage: 400 MILLIGRAM, BIW
     Dates: start: 20040601, end: 20041018
  546. ZUCLOPENTHIXOL HYDROCHLORIDE [Suspect]
     Active Substance: ZUCLOPENTHIXOL HYDROCHLORIDE
     Dosage: 400 MILLIGRAM, QWK
     Dates: start: 20040601, end: 20041018
  547. ZUCLOPENTHIXOL HYDROCHLORIDE [Suspect]
     Active Substance: ZUCLOPENTHIXOL HYDROCHLORIDE
     Dosage: 400 MILLIGRAM, QWK/ (ADDITIONAL INFORMATION ON DRUG (FREE TEXT): CLOZARIL ADDITIONAL INFO: OFF LABEL
     Dates: start: 20040601, end: 20041018
  548. ZUCLOPENTHIXOL HYDROCHLORIDE [Suspect]
     Active Substance: ZUCLOPENTHIXOL HYDROCHLORIDE
     Dosage: 300 MG, QW
     Dates: start: 20040601, end: 20041018
  549. ZUCLOPENTHIXOL HYDROCHLORIDE [Suspect]
     Active Substance: ZUCLOPENTHIXOL HYDROCHLORIDE
     Dosage: 400 MG, QW2
     Dates: start: 20091018
  550. ZUCLOPENTHIXOL HYDROCHLORIDE [Suspect]
     Active Substance: ZUCLOPENTHIXOL HYDROCHLORIDE
     Dosage: 400 MG, QW2
     Dates: start: 20041018, end: 20041018
  551. ZUCLOPENTHIXOL HYDROCHLORIDE [Suspect]
     Active Substance: ZUCLOPENTHIXOL HYDROCHLORIDE
     Dosage: 400 MG, OTHER (BIWEEKLY), CYCLICAL (ADDITIONAL INFORMATION ON DRUG (FREE TEXT): CLOZARIL ADDITIONAL
     Dates: start: 20041018, end: 20041018
  552. ZUCLOPENTHIXOL HYDROCHLORIDE [Suspect]
     Active Substance: ZUCLOPENTHIXOL HYDROCHLORIDE
     Dosage: 400 MG, QW
     Dates: start: 20041018, end: 20041018
  553. ZUCLOPENTHIXOL HYDROCHLORIDE [Suspect]
     Active Substance: ZUCLOPENTHIXOL HYDROCHLORIDE
     Dosage: 400 MG BIW
     Dates: start: 20041018, end: 20041018
  554. ZUCLOPENTHIXOL HYDROCHLORIDE [Suspect]
     Active Substance: ZUCLOPENTHIXOL HYDROCHLORIDE
     Dates: start: 20041018, end: 20041018
  555. ZUCLOPENTHIXOL HYDROCHLORIDE [Suspect]
     Active Substance: ZUCLOPENTHIXOL HYDROCHLORIDE
     Dosage: 400 MILLIGRAM, BIWEEKLY/04-FEB-2003; 17-FEB-2004 00:00
  556. ZUCLOPENTHIXOL HYDROCHLORIDE [Suspect]
     Active Substance: ZUCLOPENTHIXOL HYDROCHLORIDE
     Dosage: 800 MILLIGRAM, QW (400 MG, 2/W)/04-FEB-2003; 17-FEB-2004 00:00
  557. ZUCLOPENTHIXOL HYDROCHLORIDE [Suspect]
     Active Substance: ZUCLOPENTHIXOL HYDROCHLORIDE
     Dates: start: 20030204, end: 20040217
  558. ZUCLOPENTHIXOL HYDROCHLORIDE [Suspect]
     Active Substance: ZUCLOPENTHIXOL HYDROCHLORIDE
     Dosage: 400 MG, QW2, (CYCLIC, 04 FEB 2004); 17-FEB-2004 00:00
  559. ZUCLOPENTHIXOL HYDROCHLORIDE [Suspect]
     Active Substance: ZUCLOPENTHIXOL HYDROCHLORIDE
     Dosage: 300 MG, WEEKLY/18-OCT-2009; 17-FEB-2004 00:00, (ADDITIONAL INFORMATION ON DRUG (FREE TEXT): CLOZARIL
     Dates: start: 20091018
  560. ZUCLOPENTHIXOL HYDROCHLORIDE [Suspect]
     Active Substance: ZUCLOPENTHIXOL HYDROCHLORIDE
     Dosage: 800 MG, QW, (04 FEB 2003); 17-FEB-2004 00:00
  561. ZUCLOPENTHIXOL HYDROCHLORIDE [Suspect]
     Active Substance: ZUCLOPENTHIXOL HYDROCHLORIDE
     Dosage: 400 MILLIGRAM, WEEKLY/17-FEB-2004; 01-JUN-2004 00:00
  562. ZUCLOPENTHIXOL HYDROCHLORIDE [Suspect]
     Active Substance: ZUCLOPENTHIXOL HYDROCHLORIDE
     Dosage: 400 MG, CYCLIC (400 MG, BIWEEKLY)/01-JUN-2004; 18-OCT-2004 00:00/ 400 MILLIGRAM, Q2WK (ADDITIONAL IN
     Dates: start: 20040601, end: 20041018
  563. ZUCLOPENTHIXOL HYDROCHLORIDE [Suspect]
     Active Substance: ZUCLOPENTHIXOL HYDROCHLORIDE
     Dosage: 400 MILLIGRAM, BIWEEKLY/18-OCT-2009; 18-OCT-2004 00:00
  564. ZUCLOPENTHIXOL HYDROCHLORIDE [Suspect]
     Active Substance: ZUCLOPENTHIXOL HYDROCHLORIDE
     Dosage: 800 MILLIGRAM, QW (400 MG, 2/W)/01-JUN-2004; 18-OCT-2004 00:00
  565. ZUCLOPENTHIXOL HYDROCHLORIDE [Suspect]
     Active Substance: ZUCLOPENTHIXOL HYDROCHLORIDE
     Dosage: 400 MG, QW2, (CYCLIC, 01 JUN 2004); 18-OCT-2004 00:00
  566. ZUCLOPENTHIXOL HYDROCHLORIDE [Suspect]
     Active Substance: ZUCLOPENTHIXOL HYDROCHLORIDE
     Dosage: 400 MILLIGRAM, BIWEEKLY/18-OCT-2009
  567. ZUCLOPENTHIXOL HYDROCHLORIDE [Suspect]
     Active Substance: ZUCLOPENTHIXOL HYDROCHLORIDE
     Dosage: 300 MG, QW/300 MG, WEEKLY (1/W)
     Dates: start: 20091009
  568. ZUCLOPENTHIXOL HYDROCHLORIDE [Suspect]
     Active Substance: ZUCLOPENTHIXOL HYDROCHLORIDE
     Dates: start: 20091009
  569. ZUCLOPENTHIXOL HYDROCHLORIDE [Suspect]
     Active Substance: ZUCLOPENTHIXOL HYDROCHLORIDE
     Dosage: 300 MG, DAILY
     Dates: start: 20091009
  570. ZUCLOPENTHIXOL HYDROCHLORIDE [Suspect]
     Active Substance: ZUCLOPENTHIXOL HYDROCHLORIDE
     Dosage: 300 MG, WEEKLY (1/W), 300 MILLIGRAM, QWK, (ADDITIONAL INFORMATION ON DRUG (FREE TEXT): CLOZARIL ADDI
     Dates: start: 20091018
  571. ZUCLOPENTHIXOL HYDROCHLORIDE [Suspect]
     Active Substance: ZUCLOPENTHIXOL HYDROCHLORIDE
     Dosage: 400 MILLIGRAM, BIW, (ADDITIONAL INFORMATION ON DRUG (FREE TEXT): CLOZARIL ADDITIONAL INFO: OFF LABEL
     Dates: start: 20091018
  572. ZUCLOPENTHIXOL HYDROCHLORIDE [Suspect]
     Active Substance: ZUCLOPENTHIXOL HYDROCHLORIDE
     Dates: start: 20091018
  573. ZUCLOPENTHIXOL HYDROCHLORIDE [Suspect]
     Active Substance: ZUCLOPENTHIXOL HYDROCHLORIDE
     Dosage: 400 MILLIGRAM, QW
     Dates: start: 20091018
  574. ZUCLOPENTHIXOL HYDROCHLORIDE [Suspect]
     Active Substance: ZUCLOPENTHIXOL HYDROCHLORIDE
  575. ZUCLOPENTHIXOL HYDROCHLORIDE [Suspect]
     Active Substance: ZUCLOPENTHIXOL HYDROCHLORIDE
     Dosage: 400 MG, 1/WEEK, (ADDITIONAL INFORMATION ON DRUG (FREE TEXT): CLOZARIL ADDITIONAL INFO: OFF LABEL USE
  576. ZUCLOPENTHIXOL HYDROCHLORIDE [Suspect]
     Active Substance: ZUCLOPENTHIXOL HYDROCHLORIDE
     Dosage: 400 MILLIGRAM, EVERY WEEK
  577. ZUCLOPENTHIXOL HYDROCHLORIDE [Suspect]
     Active Substance: ZUCLOPENTHIXOL HYDROCHLORIDE
  578. ZUCLOPENTHIXOL HYDROCHLORIDE [Suspect]
     Active Substance: ZUCLOPENTHIXOL HYDROCHLORIDE
  579. ZUCLOPENTHIXOL HYDROCHLORIDE [Suspect]
     Active Substance: ZUCLOPENTHIXOL HYDROCHLORIDE
     Dosage: 400 MILLIGRAM, BIWEEKLY/04-FEB-2003; 17-FEB-2004 00:00
  580. ZUCLOPENTHIXOL HYDROCHLORIDE [Suspect]
     Active Substance: ZUCLOPENTHIXOL HYDROCHLORIDE
     Dosage: 800 MILLIGRAM, QW (400 MG, 2/W)/04-FEB-2003; 17-FEB-2004 00:00
  581. ZUCLOPENTHIXOL HYDROCHLORIDE [Suspect]
     Active Substance: ZUCLOPENTHIXOL HYDROCHLORIDE
     Dosage: 400 MG, QW2, (CYCLIC, 04 FEB 2004); 17-FEB-2004 00:00
  582. ZUCLOPENTHIXOL HYDROCHLORIDE [Suspect]
     Active Substance: ZUCLOPENTHIXOL HYDROCHLORIDE
     Dosage: 800 MG, QW, (04 FEB 2003); 17-FEB-2004 00:00
  583. ZUCLOPENTHIXOL HYDROCHLORIDE [Suspect]
     Active Substance: ZUCLOPENTHIXOL HYDROCHLORIDE
     Dosage: 400 MILLIGRAM, WEEKLY/17-FEB-2004; 01-JUN-2004 00:00
  584. ZUCLOPENTHIXOL HYDROCHLORIDE [Suspect]
     Active Substance: ZUCLOPENTHIXOL HYDROCHLORIDE
     Dosage: 400 MILLIGRAM, BIWEEKLY/18-OCT-2009; 18-OCT-2004 00:00
  585. ZUCLOPENTHIXOL HYDROCHLORIDE [Suspect]
     Active Substance: ZUCLOPENTHIXOL HYDROCHLORIDE
     Dosage: 800 MILLIGRAM, QW (400 MG, 2/W)/01-JUN-2004; 18-OCT-2004 00:00
  586. ZUCLOPENTHIXOL HYDROCHLORIDE [Suspect]
     Active Substance: ZUCLOPENTHIXOL HYDROCHLORIDE
     Dosage: 400 MG, QW2, (CYCLIC, 01 JUN 2004); 18-OCT-2004 00:00
  587. ZUCLOPENTHIXOL HYDROCHLORIDE [Suspect]
     Active Substance: ZUCLOPENTHIXOL HYDROCHLORIDE
     Dosage: 400 MILLIGRAM, BIWEEKLY/18-OCT-2009
  588. ZUCLOPENTHIXOL HYDROCHLORIDE [Suspect]
     Active Substance: ZUCLOPENTHIXOL HYDROCHLORIDE
  589. ZUCLOPENTHIXOL HYDROCHLORIDE [Suspect]
     Active Substance: ZUCLOPENTHIXOL HYDROCHLORIDE
     Dosage: 800 MILLIGRAM, QWK
     Route: 030
     Dates: end: 20040217
  590. ZUCLOPENTHIXOL HYDROCHLORIDE [Suspect]
     Active Substance: ZUCLOPENTHIXOL HYDROCHLORIDE
     Route: 030
  591. ZUCLOPENTHIXOL HYDROCHLORIDE [Suspect]
     Active Substance: ZUCLOPENTHIXOL HYDROCHLORIDE
     Dosage: 400 MILLIGRAM, QWK
     Route: 030
  592. ZUCLOPENTHIXOL HYDROCHLORIDE [Suspect]
     Active Substance: ZUCLOPENTHIXOL HYDROCHLORIDE
     Route: 030
  593. ZUCLOPENTHIXOL HYDROCHLORIDE [Suspect]
     Active Substance: ZUCLOPENTHIXOL HYDROCHLORIDE
     Route: 030
     Dates: end: 20041018
  594. ZUCLOPENTHIXOL HYDROCHLORIDE [Suspect]
     Active Substance: ZUCLOPENTHIXOL HYDROCHLORIDE
     Dosage: 400 MILLIGRAM, QWK
     Route: 030
  595. ZUCLOPENTHIXOL HYDROCHLORIDE [Suspect]
     Active Substance: ZUCLOPENTHIXOL HYDROCHLORIDE
     Route: 030
     Dates: end: 20040601
  596. ZUCLOPENTHIXOL HYDROCHLORIDE [Suspect]
     Active Substance: ZUCLOPENTHIXOL HYDROCHLORIDE
  597. ZUCLOPENTHIXOL HYDROCHLORIDE [Suspect]
     Active Substance: ZUCLOPENTHIXOL HYDROCHLORIDE
  598. ZUCLOPENTHIXOL HYDROCHLORIDE [Suspect]
     Active Substance: ZUCLOPENTHIXOL HYDROCHLORIDE
     Dosage: 400 MG, 1/WEEK, (ADDITIONAL INFORMATION ON DRUG (FREE TEXT): CLOZARIL ADDITIONAL INFO: OFF LABEL USE
  599. ZUCLOPENTHIXOL HYDROCHLORIDE [Suspect]
     Active Substance: ZUCLOPENTHIXOL HYDROCHLORIDE
     Dosage: 400 MILLIGRAM, EVERY WEEK
  600. ZUCLOPENTHIXOL HYDROCHLORIDE [Suspect]
     Active Substance: ZUCLOPENTHIXOL HYDROCHLORIDE
  601. ZUCLOPENTHIXOL HYDROCHLORIDE [Suspect]
     Active Substance: ZUCLOPENTHIXOL HYDROCHLORIDE
  602. ZUCLOPENTHIXOL HYDROCHLORIDE [Suspect]
     Active Substance: ZUCLOPENTHIXOL HYDROCHLORIDE
     Dosage: 400 MILLIGRAM, BIWEEKLY/04-FEB-2003; 17-FEB-2004 00:00
  603. ZUCLOPENTHIXOL HYDROCHLORIDE [Suspect]
     Active Substance: ZUCLOPENTHIXOL HYDROCHLORIDE
     Dosage: 800 MILLIGRAM, QW (400 MG, 2/W)/04-FEB-2003; 17-FEB-2004 00:00
  604. ZUCLOPENTHIXOL HYDROCHLORIDE [Suspect]
     Active Substance: ZUCLOPENTHIXOL HYDROCHLORIDE
     Dosage: 400 MG, QW2, (CYCLIC, 04 FEB 2004); 17-FEB-2004 00:00
  605. ZUCLOPENTHIXOL HYDROCHLORIDE [Suspect]
     Active Substance: ZUCLOPENTHIXOL HYDROCHLORIDE
     Dosage: 800 MG, QW, (04 FEB 2003); 17-FEB-2004 00:00
  606. ZUCLOPENTHIXOL HYDROCHLORIDE [Suspect]
     Active Substance: ZUCLOPENTHIXOL HYDROCHLORIDE
     Dosage: 400 MILLIGRAM, WEEKLY/17-FEB-2004; 01-JUN-2004 00:00
  607. ZUCLOPENTHIXOL HYDROCHLORIDE [Suspect]
     Active Substance: ZUCLOPENTHIXOL HYDROCHLORIDE
     Dosage: 400 MILLIGRAM, BIWEEKLY/18-OCT-2009; 18-OCT-2004 00:00
  608. ZUCLOPENTHIXOL HYDROCHLORIDE [Suspect]
     Active Substance: ZUCLOPENTHIXOL HYDROCHLORIDE
     Dosage: 800 MILLIGRAM, QW (400 MG, 2/W)/01-JUN-2004; 18-OCT-2004 00:00
  609. ZUCLOPENTHIXOL HYDROCHLORIDE [Suspect]
     Active Substance: ZUCLOPENTHIXOL HYDROCHLORIDE
     Dosage: 400 MG, QW2, (CYCLIC, 01 JUN 2004); 18-OCT-2004 00:00
  610. ZUCLOPENTHIXOL HYDROCHLORIDE [Suspect]
     Active Substance: ZUCLOPENTHIXOL HYDROCHLORIDE
     Dosage: 400 MILLIGRAM, BIWEEKLY/18-OCT-2009
  611. CLOZARIL [Suspect]
     Active Substance: CLOZAPINE
     Indication: Schizophrenia
     Dates: start: 20191209, end: 20191223
  612. CLOZARIL [Suspect]
     Active Substance: CLOZAPINE
  613. CLOZARIL [Suspect]
     Active Substance: CLOZAPINE
  614. CLOZARIL [Suspect]
     Active Substance: CLOZAPINE
  615. CLOZARIL [Suspect]
     Active Substance: CLOZAPINE
     Dates: start: 20191223, end: 20191223
  616. CLOZARIL [Suspect]
     Active Substance: CLOZAPINE
     Dates: start: 20191209, end: 20191223
  617. CLOZARIL [Suspect]
     Active Substance: CLOZAPINE
  618. CLOZARIL [Suspect]
     Active Substance: CLOZAPINE
  619. CLOZARIL [Suspect]
     Active Substance: CLOZAPINE
  620. CLOZARIL [Suspect]
     Active Substance: CLOZAPINE
     Dates: start: 20100823
  621. CLOZARIL [Suspect]
     Active Substance: CLOZAPINE
  622. CLOZARIL [Suspect]
     Active Substance: CLOZAPINE
  623. CLOZARIL [Suspect]
     Active Substance: CLOZAPINE
  624. CLOZARIL [Suspect]
     Active Substance: CLOZAPINE
  625. CLOZARIL [Suspect]
     Active Substance: CLOZAPINE
  626. CLOZARIL [Suspect]
     Active Substance: CLOZAPINE
  627. CLOZARIL [Suspect]
     Active Substance: CLOZAPINE
  628. CLOZARIL [Suspect]
     Active Substance: CLOZAPINE
     Dates: start: 20200521
  629. CLOZARIL [Suspect]
     Active Substance: CLOZAPINE
     Dates: start: 20191209, end: 20191223
  630. CLOZARIL [Suspect]
     Active Substance: CLOZAPINE
  631. CLOZARIL [Suspect]
     Active Substance: CLOZAPINE
  632. CLOZARIL [Suspect]
     Active Substance: CLOZAPINE
  633. CLOZARIL [Suspect]
     Active Substance: CLOZAPINE
  634. CLOZARIL [Suspect]
     Active Substance: CLOZAPINE
     Dates: start: 20191223, end: 20191223
  635. CLOZARIL [Suspect]
     Active Substance: CLOZAPINE
  636. CLOZARIL [Suspect]
     Active Substance: CLOZAPINE
     Dates: start: 20200521, end: 20201223
  637. CLOZARIL [Suspect]
     Active Substance: CLOZAPINE
  638. CLOZARIL [Suspect]
     Active Substance: CLOZAPINE
     Route: 048
     Dates: start: 20191223, end: 20191223
  639. CLOZARIL [Suspect]
     Active Substance: CLOZAPINE
  640. CLOZARIL [Suspect]
     Active Substance: CLOZAPINE
     Route: 048
     Dates: start: 20201207
  641. CLOZARIL [Suspect]
     Active Substance: CLOZAPINE
     Dates: start: 20191209, end: 20191223
  642. CLOZARIL [Suspect]
     Active Substance: CLOZAPINE
     Route: 048
     Dates: start: 20100823
  643. CLOZARIL [Suspect]
     Active Substance: CLOZAPINE
  644. CLOZARIL [Suspect]
     Active Substance: CLOZAPINE
  645. CLOZARIL [Suspect]
     Active Substance: CLOZAPINE
     Route: 048
     Dates: start: 20191223, end: 20191223
  646. CLOZARIL [Suspect]
     Active Substance: CLOZAPINE
     Dates: start: 20191209, end: 20191223
  647. CLOZARIL [Suspect]
     Active Substance: CLOZAPINE
     Dates: start: 20201207
  648. CLOZARIL [Suspect]
     Active Substance: CLOZAPINE
     Dates: start: 20200521
  649. CLOZARIL [Suspect]
     Active Substance: CLOZAPINE
     Dates: start: 20200521
  650. CLOZARIL [Suspect]
     Active Substance: CLOZAPINE
  651. CLOZARIL [Suspect]
     Active Substance: CLOZAPINE
     Dates: start: 2011
  652. CLOZARIL [Suspect]
     Active Substance: CLOZAPINE
     Dates: start: 2011
  653. CLOZARIL [Suspect]
     Active Substance: CLOZAPINE
  654. CLOZARIL [Suspect]
     Active Substance: CLOZAPINE
     Route: 048
  655. CLOZARIL [Suspect]
     Active Substance: CLOZAPINE
  656. CLOZARIL [Suspect]
     Active Substance: CLOZAPINE
  657. CLOZARIL [Suspect]
     Active Substance: CLOZAPINE
  658. CLOZARIL [Suspect]
     Active Substance: CLOZAPINE
  659. CLOZARIL [Suspect]
     Active Substance: CLOZAPINE
  660. CLOZARIL [Suspect]
     Active Substance: CLOZAPINE
     Route: 048
     Dates: start: 20200521
  661. CLOZARIL [Suspect]
     Active Substance: CLOZAPINE
  662. CLOZARIL [Suspect]
     Active Substance: CLOZAPINE
  663. CLOZARIL [Suspect]
     Active Substance: CLOZAPINE
  664. CLOZARIL [Suspect]
     Active Substance: CLOZAPINE
  665. CLOZARIL [Suspect]
     Active Substance: CLOZAPINE
  666. CLOZARIL [Suspect]
     Active Substance: CLOZAPINE
  667. CLOZARIL [Suspect]
     Active Substance: CLOZAPINE
  668. CLOZARIL [Suspect]
     Active Substance: CLOZAPINE
  669. CLOZARIL [Suspect]
     Active Substance: CLOZAPINE
  670. CLOZARIL [Suspect]
     Active Substance: CLOZAPINE
  671. CLOZARIL [Suspect]
     Active Substance: CLOZAPINE
  672. CLOZARIL [Suspect]
     Active Substance: CLOZAPINE
  673. CLOZARIL [Suspect]
     Active Substance: CLOZAPINE
  674. CLOZARIL [Suspect]
     Active Substance: CLOZAPINE
  675. CLOZARIL [Suspect]
     Active Substance: CLOZAPINE
  676. CLOZARIL [Suspect]
     Active Substance: CLOZAPINE
  677. CLOZARIL [Suspect]
     Active Substance: CLOZAPINE
  678. CLOZARIL [Suspect]
     Active Substance: CLOZAPINE
  679. CLOZARIL [Suspect]
     Active Substance: CLOZAPINE
  680. CLOZARIL [Suspect]
     Active Substance: CLOZAPINE
  681. CLOZARIL [Suspect]
     Active Substance: CLOZAPINE
  682. CLOZARIL [Suspect]
     Active Substance: CLOZAPINE
  683. CLOZARIL [Suspect]
     Active Substance: CLOZAPINE
  684. CLOZARIL [Suspect]
     Active Substance: CLOZAPINE
  685. CLOZARIL [Suspect]
     Active Substance: CLOZAPINE
     Route: 048
  686. CLOZARIL [Suspect]
     Active Substance: CLOZAPINE
  687. CLOZARIL [Suspect]
     Active Substance: CLOZAPINE
  688. CLOZARIL [Suspect]
     Active Substance: CLOZAPINE
  689. CLOZARIL [Suspect]
     Active Substance: CLOZAPINE
  690. CLOZARIL [Suspect]
     Active Substance: CLOZAPINE
  691. CLOZARIL [Suspect]
     Active Substance: CLOZAPINE
     Indication: Product used for unknown indication
     Route: 048
     Dates: start: 20200521
  692. CLOZARIL [Suspect]
     Active Substance: CLOZAPINE
     Route: 048
     Dates: start: 20191209, end: 20191223
  693. CLOZARIL [Suspect]
     Active Substance: CLOZAPINE
     Route: 048
     Dates: start: 20191223, end: 20191223
  694. CLOZARIL [Suspect]
     Active Substance: CLOZAPINE
     Route: 048
     Dates: start: 20191223, end: 20191223
  695. CLOZARIL [Suspect]
     Active Substance: CLOZAPINE
     Route: 048
     Dates: start: 20100823, end: 20100823
  696. CLOZARIL [Suspect]
     Active Substance: CLOZAPINE
     Route: 048
     Dates: start: 20200823, end: 20200823
  697. CLOZARIL [Suspect]
     Active Substance: CLOZAPINE
     Route: 048
     Dates: start: 20200521
  698. CLOZARIL [Suspect]
     Active Substance: CLOZAPINE
  699. CLOZARIL [Suspect]
     Active Substance: CLOZAPINE
     Dates: start: 20100823
  700. CLOZARIL [Suspect]
     Active Substance: CLOZAPINE
     Route: 048
     Dates: start: 2011
  701. CLOZARIL [Suspect]
     Active Substance: CLOZAPINE
  702. CLOZARIL [Suspect]
     Active Substance: CLOZAPINE
     Dates: start: 20100823
  703. CLOZARIL [Suspect]
     Active Substance: CLOZAPINE
     Route: 048
  704. CLOZARIL [Suspect]
     Active Substance: CLOZAPINE
     Dates: start: 20191207, end: 20191223
  705. CLOZARIL [Suspect]
     Active Substance: CLOZAPINE
  706. CLOZARIL [Suspect]
     Active Substance: CLOZAPINE
  707. CLOZARIL [Suspect]
     Active Substance: CLOZAPINE
     Dates: start: 20191223, end: 20191223
  708. CLOZARIL [Suspect]
     Active Substance: CLOZAPINE
     Dates: start: 20191209, end: 20191223
  709. CLOZARIL [Suspect]
     Active Substance: CLOZAPINE
     Route: 048
     Dates: start: 20201209, end: 20201223
  710. CLOZARIL [Suspect]
     Active Substance: CLOZAPINE
     Route: 048
     Dates: start: 20100823
  711. CLOZARIL [Suspect]
     Active Substance: CLOZAPINE
     Route: 048
     Dates: start: 20190823, end: 20190823
  712. CLOZARIL [Suspect]
     Active Substance: CLOZAPINE
     Route: 048
     Dates: start: 20200521
  713. CLOZARIL [Suspect]
     Active Substance: CLOZAPINE
     Route: 048
     Dates: start: 20200207
  714. CLOZARIL [Suspect]
     Active Substance: CLOZAPINE
     Route: 048
     Dates: start: 20200521
  715. CLOZARIL [Suspect]
     Active Substance: CLOZAPINE
     Route: 048
     Dates: start: 20191207
  716. CLOZARIL [Suspect]
     Active Substance: CLOZAPINE
     Route: 048
     Dates: start: 2011
  717. CLOZARIL [Suspect]
     Active Substance: CLOZAPINE
     Route: 048
  718. CLOZARIL [Suspect]
     Active Substance: CLOZAPINE
     Route: 048
     Dates: start: 20200521, end: 20200521
  719. CLOZARIL [Suspect]
     Active Substance: CLOZAPINE
     Route: 048
  720. CLOZARIL [Suspect]
     Active Substance: CLOZAPINE
     Route: 048
     Dates: start: 20191209, end: 20191223
  721. CLOZARIL [Suspect]
     Active Substance: CLOZAPINE
     Route: 048
     Dates: start: 20201207
  722. CLOZARIL [Suspect]
     Active Substance: CLOZAPINE
     Route: 048
  723. CLOZARIL [Suspect]
     Active Substance: CLOZAPINE
     Route: 048
     Dates: start: 20191209, end: 20191223
  724. CLOZARIL [Suspect]
     Active Substance: CLOZAPINE
     Route: 048
     Dates: start: 20100823
  725. CLOZARIL [Suspect]
     Active Substance: CLOZAPINE
     Route: 048
     Dates: start: 20191223, end: 20191223
  726. CLOZARIL [Suspect]
     Active Substance: CLOZAPINE
     Route: 048
     Dates: start: 2011
  727. CLOZARIL [Suspect]
     Active Substance: CLOZAPINE
     Route: 048
  728. CLOZARIL [Suspect]
     Active Substance: CLOZAPINE
     Route: 048
     Dates: start: 20100823, end: 20100823
  729. CLOZARIL [Suspect]
     Active Substance: CLOZAPINE
     Route: 048
     Dates: start: 20200521
  730. CLOZARIL [Suspect]
     Active Substance: CLOZAPINE
     Route: 048
     Dates: start: 20200823
  731. CLOZARIL [Suspect]
     Active Substance: CLOZAPINE
     Route: 048
     Dates: start: 20200521, end: 20200521
  732. CLOZARIL [Suspect]
     Active Substance: CLOZAPINE
     Route: 048
     Dates: start: 20191209, end: 20191223
  733. CLOZARIL [Suspect]
     Active Substance: CLOZAPINE
     Route: 048
     Dates: start: 20191209, end: 20191223
  734. CLOZARIL [Suspect]
     Active Substance: CLOZAPINE
     Route: 048
     Dates: start: 20191223, end: 20191223
  735. CLOZARIL [Suspect]
     Active Substance: CLOZAPINE
     Route: 048
     Dates: start: 20191209, end: 20191223
  736. CLOZARIL [Suspect]
     Active Substance: CLOZAPINE
     Route: 048
     Dates: start: 20191209, end: 20191223
  737. CLOZARIL [Suspect]
     Active Substance: CLOZAPINE
     Route: 048
  738. CLOZARIL [Suspect]
     Active Substance: CLOZAPINE
     Route: 048
     Dates: start: 20201207
  739. CLOZARIL [Suspect]
     Active Substance: CLOZAPINE
     Route: 048
  740. CLOZARIL [Suspect]
     Active Substance: CLOZAPINE
     Dates: start: 2011
  741. CLOZARIL [Suspect]
     Active Substance: CLOZAPINE
  742. CLOZARIL [Suspect]
     Active Substance: CLOZAPINE
  743. CLOZARIL [Suspect]
     Active Substance: CLOZAPINE
     Route: 048
  744. CLOZARIL [Suspect]
     Active Substance: CLOZAPINE
  745. CLOZARIL [Suspect]
     Active Substance: CLOZAPINE
  746. CLOZARIL [Suspect]
     Active Substance: CLOZAPINE
     Route: 048
  747. CLOZARIL [Suspect]
     Active Substance: CLOZAPINE
     Route: 048
  748. CLOZARIL [Suspect]
     Active Substance: CLOZAPINE
     Route: 048
  749. CLOZARIL [Suspect]
     Active Substance: CLOZAPINE
     Route: 048
  750. CLOZARIL [Suspect]
     Active Substance: CLOZAPINE
     Route: 048
  751. CLOZARIL [Suspect]
     Active Substance: CLOZAPINE
     Route: 048
  752. CLOZARIL [Suspect]
     Active Substance: CLOZAPINE
     Indication: Schizophrenia
  753. CLOZARIL [Suspect]
     Active Substance: CLOZAPINE
     Indication: Schizophrenia
     Route: 048
     Dates: start: 20100823
  754. CLOZARIL [Suspect]
     Active Substance: CLOZAPINE
     Route: 048
     Dates: start: 20201207
  755. CLOZARIL [Suspect]
     Active Substance: CLOZAPINE
     Route: 048
     Dates: start: 20200207
  756. CLOZARIL [Suspect]
     Active Substance: CLOZAPINE
     Route: 048
     Dates: start: 20190809, end: 20190823
  757. CLOZARIL [Suspect]
     Active Substance: CLOZAPINE
     Route: 048
     Dates: start: 20191207, end: 20191223
  758. CLOZARIL [Suspect]
     Active Substance: CLOZAPINE
     Route: 048
  759. CLOZARIL [Suspect]
     Active Substance: CLOZAPINE
     Route: 048
     Dates: start: 20200521, end: 2021
  760. CLOZARIL [Suspect]
     Active Substance: CLOZAPINE
     Route: 048
     Dates: start: 20201223, end: 20201223
  761. CLOZARIL [Suspect]
     Active Substance: CLOZAPINE
     Route: 048
  762. CLOZARIL [Suspect]
     Active Substance: CLOZAPINE
  763. CLOZARIL [Suspect]
     Active Substance: CLOZAPINE
     Dates: start: 2011
  764. CLOZARIL [Suspect]
     Active Substance: CLOZAPINE
     Route: 048
     Dates: start: 20191209, end: 20191223
  765. CLOZARIL [Suspect]
     Active Substance: CLOZAPINE
     Route: 048
     Dates: start: 2011
  766. CLOZARIL [Suspect]
     Active Substance: CLOZAPINE
     Route: 048
     Dates: start: 20201207
  767. CLOZARIL [Suspect]
     Active Substance: CLOZAPINE
     Route: 048
  768. CLOZARIL [Suspect]
     Active Substance: CLOZAPINE
  769. CLOZARIL [Suspect]
     Active Substance: CLOZAPINE
     Route: 048
     Dates: start: 20191209, end: 20191223
  770. CLOZARIL [Suspect]
     Active Substance: CLOZAPINE
     Route: 048
     Dates: start: 20191209, end: 20191223
  771. CLOZARIL [Suspect]
     Active Substance: CLOZAPINE
     Route: 048
     Dates: start: 20191209, end: 20191223
  772. CLOZARIL [Suspect]
     Active Substance: CLOZAPINE
     Route: 048
     Dates: start: 20201207
  773. CLOZARIL [Suspect]
     Active Substance: CLOZAPINE
     Dates: start: 20191207
  774. CLOZARIL [Suspect]
     Active Substance: CLOZAPINE
     Route: 048
     Dates: start: 20200521
  775. CLOZARIL [Suspect]
     Active Substance: CLOZAPINE
     Route: 048
     Dates: start: 2011
  776. CLOZARIL [Suspect]
     Active Substance: CLOZAPINE
     Route: 048
     Dates: start: 2011
  777. CLOZARIL [Suspect]
     Active Substance: CLOZAPINE
     Route: 048
     Dates: start: 20191223, end: 20191223
  778. CLOZARIL [Suspect]
     Active Substance: CLOZAPINE
     Route: 048
  779. CLOZARIL [Suspect]
     Active Substance: CLOZAPINE
     Route: 048
     Dates: start: 20191209, end: 20191223
  780. CLOZARIL [Suspect]
     Active Substance: CLOZAPINE
     Route: 048
  781. CLOZARIL [Suspect]
     Active Substance: CLOZAPINE
     Route: 048
     Dates: start: 20100823
  782. CLOZARIL [Suspect]
     Active Substance: CLOZAPINE
  783. CLOZARIL [Suspect]
     Active Substance: CLOZAPINE
     Route: 048
     Dates: start: 20100823, end: 20100823
  784. CLOZARIL [Suspect]
     Active Substance: CLOZAPINE
     Route: 048
  785. CLOZARIL [Suspect]
     Active Substance: CLOZAPINE
     Route: 048
     Dates: start: 20200521
  786. CLOZARIL [Suspect]
     Active Substance: CLOZAPINE
     Route: 048
     Dates: start: 2011
  787. CLOZARIL [Suspect]
     Active Substance: CLOZAPINE
     Route: 048
     Dates: start: 20100823
  788. CLOZARIL [Suspect]
     Active Substance: CLOZAPINE
     Route: 048
     Dates: start: 20200521
  789. CLOZARIL [Suspect]
     Active Substance: CLOZAPINE
     Route: 048
     Dates: start: 20100823
  790. CLOZARIL [Suspect]
     Active Substance: CLOZAPINE
  791. CLOZARIL [Suspect]
     Active Substance: CLOZAPINE
     Route: 048
     Dates: start: 20191209, end: 20191223
  792. CLOZARIL [Suspect]
     Active Substance: CLOZAPINE
     Route: 048
  793. CLOZARIL [Suspect]
     Active Substance: CLOZAPINE
     Route: 048
     Dates: start: 20190823, end: 20190823
  794. CLOZARIL [Suspect]
     Active Substance: CLOZAPINE
     Route: 048
  795. CLOZARIL [Suspect]
     Active Substance: CLOZAPINE
     Route: 048
     Dates: start: 20191223, end: 20191223
  796. CLOZARIL [Suspect]
     Active Substance: CLOZAPINE
     Route: 048
  797. CLOZARIL [Suspect]
     Active Substance: CLOZAPINE
     Route: 048
     Dates: start: 20191223, end: 20191223
  798. CLOZARIL [Suspect]
     Active Substance: CLOZAPINE
     Route: 048
     Dates: start: 20100823, end: 20100823
  799. CLOZARIL [Suspect]
     Active Substance: CLOZAPINE
     Dates: start: 20100823, end: 20100823
  800. CLOZARIL [Suspect]
     Active Substance: CLOZAPINE
     Route: 048
     Dates: start: 2011
  801. CLOZARIL [Suspect]
     Active Substance: CLOZAPINE
     Route: 048
  802. CLOZARIL [Suspect]
     Active Substance: CLOZAPINE
  803. CLOZARIL [Suspect]
     Active Substance: CLOZAPINE
     Route: 048
  804. CLOZARIL [Suspect]
     Active Substance: CLOZAPINE
     Route: 048
  805. CLOZARIL [Suspect]
     Active Substance: CLOZAPINE
  806. CLOZARIL [Suspect]
     Active Substance: CLOZAPINE
     Route: 048
  807. CLOZARIL [Suspect]
     Active Substance: CLOZAPINE
  808. CLOZARIL [Suspect]
     Active Substance: CLOZAPINE
     Route: 048
  809. CLOZARIL [Suspect]
     Active Substance: CLOZAPINE
     Route: 048
  810. CLOZARIL [Suspect]
     Active Substance: CLOZAPINE
  811. CLOZARIL [Suspect]
     Active Substance: CLOZAPINE
     Route: 048
  812. CLOZARIL [Suspect]
     Active Substance: CLOZAPINE
  813. CLOZARIL [Suspect]
     Active Substance: CLOZAPINE
     Route: 048
  814. CLOZARIL [Suspect]
     Active Substance: CLOZAPINE
     Route: 048
  815. CLOZARIL [Suspect]
     Active Substance: CLOZAPINE
     Route: 048
  816. CLOZARIL [Suspect]
     Active Substance: CLOZAPINE
     Route: 048
  817. CLOZARIL [Suspect]
     Active Substance: CLOZAPINE
     Indication: Schizophrenia
     Route: 048
     Dates: start: 20200521
  818. CLOZARIL [Suspect]
     Active Substance: CLOZAPINE
     Route: 048
     Dates: start: 20200207
  819. CLOZARIL [Suspect]
     Active Substance: CLOZAPINE
     Route: 048
     Dates: start: 20191207
  820. CLOZARIL [Suspect]
     Active Substance: CLOZAPINE
     Route: 048
     Dates: start: 20100823
  821. CLOZARIL [Suspect]
     Active Substance: CLOZAPINE
     Route: 048
     Dates: start: 20191223, end: 20191223
  822. CLOZARIL [Suspect]
     Active Substance: CLOZAPINE
     Route: 048
     Dates: start: 20191223, end: 20191223
  823. CLOZARIL [Suspect]
     Active Substance: CLOZAPINE
     Route: 048
     Dates: start: 2011
  824. CLOZARIL [Suspect]
     Active Substance: CLOZAPINE
     Route: 048
     Dates: start: 20190809, end: 20190823
  825. CLOZARIL [Suspect]
     Active Substance: CLOZAPINE
     Route: 048
     Dates: start: 20201209, end: 20201223
  826. CLOZARIL [Suspect]
     Active Substance: CLOZAPINE
     Route: 048
     Dates: start: 20190823, end: 20190823
  827. CLOZARIL [Suspect]
     Active Substance: CLOZAPINE
     Route: 048
     Dates: start: 20200207
  828. CLOZARIL [Suspect]
     Active Substance: CLOZAPINE
     Route: 048
     Dates: start: 20191207
  829. CLOZARIL [Suspect]
     Active Substance: CLOZAPINE
     Route: 048
     Dates: start: 20191209, end: 20191223
  830. CLOZARIL [Suspect]
     Active Substance: CLOZAPINE
     Route: 048
     Dates: start: 20191207, end: 20191223
  831. CLOZARIL [Suspect]
     Active Substance: CLOZAPINE
     Route: 048
     Dates: start: 20190823, end: 20190823
  832. CLOZARIL [Suspect]
     Active Substance: CLOZAPINE
     Route: 048
     Dates: start: 20191223, end: 20191223
  833. CLOZARIL [Suspect]
     Active Substance: CLOZAPINE
     Route: 048
     Dates: start: 2011
  834. CLOZARIL [Suspect]
     Active Substance: CLOZAPINE
     Route: 048
     Dates: start: 20191209, end: 20191223
  835. CLOZARIL [Suspect]
     Active Substance: CLOZAPINE
     Route: 048
     Dates: start: 20201223, end: 20201223
  836. CLOZARIL [Suspect]
     Active Substance: CLOZAPINE
     Route: 048
     Dates: start: 20191209, end: 20191223
  837. CLOZARIL [Suspect]
     Active Substance: CLOZAPINE
     Route: 048
     Dates: start: 20191223, end: 20191223
  838. CLOZARIL [Suspect]
     Active Substance: CLOZAPINE
     Route: 048
     Dates: start: 2011
  839. CLOZARIL [Suspect]
     Active Substance: CLOZAPINE
     Route: 048
     Dates: start: 20100823
  840. CLOZARIL [Suspect]
     Active Substance: CLOZAPINE
     Route: 048
     Dates: start: 20191209, end: 20191223
  841. CLOZARIL [Suspect]
     Active Substance: CLOZAPINE
     Route: 048
     Dates: start: 20191209, end: 20191223
  842. CLOZARIL [Suspect]
     Active Substance: CLOZAPINE
     Route: 048
     Dates: start: 20201207
  843. CLOZARIL [Suspect]
     Active Substance: CLOZAPINE
     Route: 048
     Dates: start: 20200521, end: 20200521
  844. CLOZARIL [Suspect]
     Active Substance: CLOZAPINE
     Route: 048
     Dates: start: 20200521
  845. CLOZARIL [Suspect]
     Active Substance: CLOZAPINE
     Route: 048
     Dates: start: 20200521
  846. CLOZARIL [Suspect]
     Active Substance: CLOZAPINE
     Route: 048
     Dates: start: 20200521
  847. CLOZARIL [Suspect]
     Active Substance: CLOZAPINE
     Route: 048
     Dates: start: 20200521, end: 2021
  848. CLOZARIL [Suspect]
     Active Substance: CLOZAPINE
     Route: 048
     Dates: start: 2011
  849. CLOZARIL [Suspect]
     Active Substance: CLOZAPINE
     Route: 048
     Dates: start: 20200521
  850. CLOZARIL [Suspect]
     Active Substance: CLOZAPINE
     Route: 048
  851. CLOZARIL [Suspect]
     Active Substance: CLOZAPINE
     Route: 048
     Dates: start: 20201207
  852. CLOZARIL [Suspect]
     Active Substance: CLOZAPINE
     Route: 048
  853. CLOZARIL [Suspect]
     Active Substance: CLOZAPINE
     Dates: start: 2011
  854. CLOZARIL [Suspect]
     Active Substance: CLOZAPINE
     Route: 048
     Dates: start: 20191209, end: 20191223
  855. CLOZARIL [Suspect]
     Active Substance: CLOZAPINE
  856. CLOZARIL [Suspect]
     Active Substance: CLOZAPINE
     Route: 048
  857. CLOZARIL [Suspect]
     Active Substance: CLOZAPINE
     Route: 048
  858. CLOZARIL [Suspect]
     Active Substance: CLOZAPINE
     Route: 048
  859. CLOZARIL [Suspect]
     Active Substance: CLOZAPINE
     Dates: start: 20191209, end: 20191223
  860. CLOZARIL [Suspect]
     Active Substance: CLOZAPINE
     Route: 048
  861. CLOZARIL [Suspect]
     Active Substance: CLOZAPINE
     Route: 048
     Dates: start: 20100823
  862. CLOZARIL [Suspect]
     Active Substance: CLOZAPINE
     Route: 048
  863. CLOZARIL [Suspect]
     Active Substance: CLOZAPINE
     Route: 048
     Dates: start: 20201209, end: 20201223
  864. CLOZARIL [Suspect]
     Active Substance: CLOZAPINE
     Route: 048
     Dates: start: 20191209, end: 20191223
  865. CLOZARIL [Suspect]
     Active Substance: CLOZAPINE
     Route: 048
     Dates: start: 20191209, end: 20191223
  866. CLOZARIL [Suspect]
     Active Substance: CLOZAPINE
     Dates: start: 2011
  867. CLOZARIL [Suspect]
     Active Substance: CLOZAPINE
     Route: 048
  868. CLOZARIL [Suspect]
     Active Substance: CLOZAPINE
     Route: 048
  869. CLOZARIL [Suspect]
     Active Substance: CLOZAPINE
  870. CLOZARIL [Suspect]
     Active Substance: CLOZAPINE
     Route: 048
  871. CLOZARIL [Suspect]
     Active Substance: CLOZAPINE
     Route: 048
  872. CLOZARIL [Suspect]
     Active Substance: CLOZAPINE
     Route: 048
  873. CLOZARIL [Suspect]
     Active Substance: CLOZAPINE
     Route: 048
  874. CLOZARIL [Suspect]
     Active Substance: CLOZAPINE
     Route: 048
  875. CLOZARIL [Suspect]
     Active Substance: CLOZAPINE
     Indication: Schizophrenia
     Route: 048
     Dates: start: 20191223
  876. CLOZARIL [Suspect]
     Active Substance: CLOZAPINE
     Indication: Schizophrenia
     Route: 048
     Dates: start: 20200521, end: 2021
  877. CLOZARIL [Suspect]
     Active Substance: CLOZAPINE
     Route: 048
  878. CLOZARIL [Suspect]
     Active Substance: CLOZAPINE
     Route: 048
     Dates: start: 20201207
  879. CLOZARIL [Suspect]
     Active Substance: CLOZAPINE
     Route: 048
     Dates: start: 20191223, end: 20191223
  880. CLOZARIL [Suspect]
     Active Substance: CLOZAPINE
     Route: 048
     Dates: start: 20191219, end: 20191223
  881. CLOZARIL [Suspect]
     Active Substance: CLOZAPINE
     Route: 048
     Dates: start: 20201207
  882. CLOZARIL [Suspect]
     Active Substance: CLOZAPINE
     Route: 048
     Dates: start: 20191223
  883. CLOZARIL [Suspect]
     Active Substance: CLOZAPINE
  884. CLOZARIL [Suspect]
     Active Substance: CLOZAPINE
     Route: 048
  885. CLOZARIL [Suspect]
     Active Substance: CLOZAPINE
     Route: 048
     Dates: start: 20191209, end: 20191223
  886. CLOZARIL [Suspect]
     Active Substance: CLOZAPINE
     Route: 048
     Dates: start: 20191209
  887. CLOZARIL [Suspect]
     Active Substance: CLOZAPINE
     Dates: start: 20191207
  888. CLOZARIL [Suspect]
     Active Substance: CLOZAPINE
     Route: 048
     Dates: start: 20200521
  889. CLOZARIL [Suspect]
     Active Substance: CLOZAPINE
     Route: 048
     Dates: start: 20100823
  890. CLOZARIL [Suspect]
     Active Substance: CLOZAPINE
  891. CLOZARIL [Suspect]
     Active Substance: CLOZAPINE
     Dates: start: 20191223, end: 20191223
  892. CLOZARIL [Suspect]
     Active Substance: CLOZAPINE
  893. CLOZARIL [Suspect]
     Active Substance: CLOZAPINE
  894. CLOZARIL [Suspect]
     Active Substance: CLOZAPINE
     Route: 048
  895. CLOZARIL [Suspect]
     Active Substance: CLOZAPINE
     Route: 048
     Dates: start: 20191209, end: 20191223
  896. CLOZARIL [Suspect]
     Active Substance: CLOZAPINE
     Route: 048
     Dates: start: 20200521
  897. CLOZARIL [Suspect]
     Active Substance: CLOZAPINE
     Dates: start: 20200521
  898. CLOZARIL [Suspect]
     Active Substance: CLOZAPINE
     Route: 048
     Dates: start: 20191207, end: 20191223
  899. CLOZARIL [Suspect]
     Active Substance: CLOZAPINE
     Route: 048
     Dates: start: 20191223, end: 20191223
  900. CLOZARIL [Suspect]
     Active Substance: CLOZAPINE
     Dates: start: 20200521
  901. CLOZARIL [Suspect]
     Active Substance: CLOZAPINE
     Route: 048
     Dates: start: 20210823
  902. CLOZARIL [Suspect]
     Active Substance: CLOZAPINE
     Route: 048
     Dates: start: 20191223, end: 20191223
  903. CLOZARIL [Suspect]
     Active Substance: CLOZAPINE
     Route: 048
     Dates: start: 20201207
  904. CLOZARIL [Suspect]
     Active Substance: CLOZAPINE
     Dates: start: 20201207
  905. CLOZARIL [Suspect]
     Active Substance: CLOZAPINE
     Route: 048
  906. CLOZARIL [Suspect]
     Active Substance: CLOZAPINE
     Dates: start: 20191209, end: 20191223
  907. CLOZARIL [Suspect]
     Active Substance: CLOZAPINE
     Dates: start: 20191223, end: 20191223
  908. CLOZARIL [Suspect]
     Active Substance: CLOZAPINE
     Route: 048
     Dates: start: 2021
  909. CLOZARIL [Suspect]
     Active Substance: CLOZAPINE
     Route: 048
     Dates: start: 20191209
  910. CLOZARIL [Suspect]
     Active Substance: CLOZAPINE
     Route: 048
     Dates: start: 2020
  911. CLOZARIL [Suspect]
     Active Substance: CLOZAPINE
     Route: 048
     Dates: start: 20201207
  912. CLOZARIL [Suspect]
     Active Substance: CLOZAPINE
     Route: 048
     Dates: start: 2011
  913. CLOZARIL [Suspect]
     Active Substance: CLOZAPINE
     Route: 048
  914. CLOZARIL [Suspect]
     Active Substance: CLOZAPINE
  915. CLOZARIL [Suspect]
     Active Substance: CLOZAPINE
     Route: 048
  916. CLOZARIL [Suspect]
     Active Substance: CLOZAPINE
  917. CLOZARIL [Suspect]
     Active Substance: CLOZAPINE
  918. CLOZARIL [Suspect]
     Active Substance: CLOZAPINE
  919. CLOZARIL [Suspect]
     Active Substance: CLOZAPINE
     Route: 048
  920. CLOZARIL [Suspect]
     Active Substance: CLOZAPINE
     Route: 048
  921. CLOZARIL [Suspect]
     Active Substance: CLOZAPINE
     Indication: Schizophrenia
     Route: 048
     Dates: start: 20100823
  922. CLOZARIL [Suspect]
     Active Substance: CLOZAPINE
     Route: 048
     Dates: start: 20100823
  923. CLOZARIL [Suspect]
     Active Substance: CLOZAPINE
     Dates: start: 20100823, end: 20100823
  924. CLOZARIL [Suspect]
     Active Substance: CLOZAPINE
     Route: 048
     Dates: start: 20100823
  925. CLOZARIL [Suspect]
     Active Substance: CLOZAPINE
     Route: 048
     Dates: start: 20100823, end: 20200823
  926. CLOZARIL [Suspect]
     Active Substance: CLOZAPINE
     Route: 048
     Dates: start: 20100823, end: 20100823
  927. CLOZARIL [Suspect]
     Active Substance: CLOZAPINE
     Route: 048
     Dates: start: 20100823
  928. CLOZARIL [Suspect]
     Active Substance: CLOZAPINE
     Dates: start: 2011
  929. CLOZARIL [Suspect]
     Active Substance: CLOZAPINE
     Dates: start: 2011
  930. CLOZARIL [Suspect]
     Active Substance: CLOZAPINE
     Dates: start: 20191207, end: 20191223
  931. CLOZARIL [Suspect]
     Active Substance: CLOZAPINE
     Route: 048
     Dates: start: 20191209
  932. CLOZARIL [Suspect]
     Active Substance: CLOZAPINE
     Route: 048
     Dates: start: 20191209, end: 20191223
  933. CLOZARIL [Suspect]
     Active Substance: CLOZAPINE
     Route: 048
     Dates: start: 20191209, end: 20191223
  934. CLOZARIL [Suspect]
     Active Substance: CLOZAPINE
     Route: 048
     Dates: start: 20191209, end: 20191223
  935. CLOZARIL [Suspect]
     Active Substance: CLOZAPINE
     Dates: start: 20191209, end: 20191223
  936. CLOZARIL [Suspect]
     Active Substance: CLOZAPINE
     Route: 048
     Dates: start: 20191209, end: 20191223
  937. CLOZARIL [Suspect]
     Active Substance: CLOZAPINE
     Route: 048
     Dates: start: 20191223, end: 20191223
  938. CLOZARIL [Suspect]
     Active Substance: CLOZAPINE
     Route: 048
     Dates: start: 20191223, end: 20191223
  939. CLOZARIL [Suspect]
     Active Substance: CLOZAPINE
     Route: 048
     Dates: start: 20200521
  940. CLOZARIL [Suspect]
     Active Substance: CLOZAPINE
     Dates: start: 20200521
  941. CLOZARIL [Suspect]
     Active Substance: CLOZAPINE
     Route: 048
     Dates: start: 20200521, end: 2020
  942. CLOZARIL [Suspect]
     Active Substance: CLOZAPINE
     Route: 048
     Dates: start: 20200521
  943. CLOZARIL [Suspect]
     Active Substance: CLOZAPINE
     Dates: start: 20200521
  944. CLOZARIL [Suspect]
     Active Substance: CLOZAPINE
  945. CLOZARIL [Suspect]
     Active Substance: CLOZAPINE
  946. CLOZARIL [Suspect]
     Active Substance: CLOZAPINE
     Route: 048
     Dates: start: 20200521, end: 2020
  947. CLOZARIL [Suspect]
     Active Substance: CLOZAPINE
     Route: 048
     Dates: start: 20200521
  948. CLOZARIL [Suspect]
     Active Substance: CLOZAPINE
     Route: 048
     Dates: start: 20200521, end: 2021
  949. CLOZARIL [Suspect]
     Active Substance: CLOZAPINE
     Route: 048
     Dates: start: 20200521
  950. CLOZARIL [Suspect]
     Active Substance: CLOZAPINE
     Route: 048
     Dates: start: 20200521
  951. CLOZARIL [Suspect]
     Active Substance: CLOZAPINE
     Route: 048
     Dates: start: 20200521, end: 2020
  952. CLOZARIL [Suspect]
     Active Substance: CLOZAPINE
     Dates: start: 20201207
  953. CLOZARIL [Suspect]
     Active Substance: CLOZAPINE
     Route: 048
     Dates: start: 20201207
  954. CLOZARIL [Suspect]
     Active Substance: CLOZAPINE
     Route: 048
     Dates: start: 20201207
  955. CLOZARIL [Suspect]
     Active Substance: CLOZAPINE
     Route: 048
     Dates: start: 20201207
  956. CLOZARIL [Suspect]
     Active Substance: CLOZAPINE
     Route: 048
     Dates: start: 20201207
  957. CLOZARIL [Suspect]
     Active Substance: CLOZAPINE
  958. CLOZARIL [Suspect]
     Active Substance: CLOZAPINE
     Route: 048
  959. CLOZARIL [Suspect]
     Active Substance: CLOZAPINE
     Route: 048
     Dates: end: 20191223
  960. CLOZARIL [Suspect]
     Active Substance: CLOZAPINE
  961. CLOZARIL [Suspect]
     Active Substance: CLOZAPINE
     Route: 048
  962. CLOZARIL [Suspect]
     Active Substance: CLOZAPINE
  963. CLOZARIL [Suspect]
     Active Substance: CLOZAPINE
     Route: 048
     Dates: end: 20220719
  964. CLOZARIL [Suspect]
     Active Substance: CLOZAPINE
     Dates: start: 20200521
  965. CLOZARIL [Suspect]
     Active Substance: CLOZAPINE
     Dates: start: 20191209, end: 20191223
  966. CLOZARIL [Suspect]
     Active Substance: CLOZAPINE
     Dates: start: 2011
  967. CLOZARIL [Suspect]
     Active Substance: CLOZAPINE
     Route: 048
     Dates: start: 20100823
  968. CLOZARIL [Suspect]
     Active Substance: CLOZAPINE
     Route: 048
     Dates: start: 20191223, end: 20191223
  969. CLOZARIL [Suspect]
     Active Substance: CLOZAPINE
     Route: 048
     Dates: start: 20201207
  970. CLOZARIL [Suspect]
     Active Substance: CLOZAPINE
  971. CLOZARIL [Suspect]
     Active Substance: CLOZAPINE
  972. CLOZARIL [Suspect]
     Active Substance: CLOZAPINE
  973. CLOZARIL [Suspect]
     Active Substance: CLOZAPINE
  974. CLOZARIL [Suspect]
     Active Substance: CLOZAPINE
     Route: 048
  975. CLOZARIL [Suspect]
     Active Substance: CLOZAPINE
  976. CLOZARIL [Suspect]
     Active Substance: CLOZAPINE
     Route: 048
  977. CLOZARIL [Suspect]
     Active Substance: CLOZAPINE
  978. CLOZARIL [Suspect]
     Active Substance: CLOZAPINE
  979. CLOZARIL [Suspect]
     Active Substance: CLOZAPINE
  980. CLOZARIL [Suspect]
     Active Substance: CLOZAPINE
  981. CLOZARIL [Suspect]
     Active Substance: CLOZAPINE
  982. CLOZARIL [Suspect]
     Active Substance: CLOZAPINE
     Route: 048
  983. CLOZARIL [Suspect]
     Active Substance: CLOZAPINE
  984. CLOZARIL [Suspect]
     Active Substance: CLOZAPINE
     Route: 048
  985. CLOZARIL [Suspect]
     Active Substance: CLOZAPINE
  986. CLOZARIL [Suspect]
     Active Substance: CLOZAPINE
  987. CLOZARIL [Suspect]
     Active Substance: CLOZAPINE
     Indication: Schizophrenia
     Route: 048
     Dates: start: 20191207, end: 20191223
  988. CLOZARIL [Suspect]
     Active Substance: CLOZAPINE
     Route: 048
     Dates: start: 2021
  989. CLOZARIL [Suspect]
     Active Substance: CLOZAPINE
  990. CLOZARIL [Suspect]
     Active Substance: CLOZAPINE
     Route: 048
     Dates: start: 20191223, end: 20191223
  991. CLOZARIL [Suspect]
     Active Substance: CLOZAPINE
     Route: 048
     Dates: start: 20191223, end: 20191223
  992. CLOZARIL [Suspect]
     Active Substance: CLOZAPINE
     Route: 048
     Dates: start: 20200207
  993. CLOZARIL [Suspect]
     Active Substance: CLOZAPINE
     Route: 048
     Dates: start: 20200521, end: 2021
  994. CLOZARIL [Suspect]
     Active Substance: CLOZAPINE
     Route: 048
     Dates: start: 20100823
  995. CLOZARIL [Suspect]
     Active Substance: CLOZAPINE
  996. CLOZARIL [Suspect]
     Active Substance: CLOZAPINE
     Dates: start: 20100823
  997. CLOZARIL [Suspect]
     Active Substance: CLOZAPINE
  998. CLOZARIL [Suspect]
     Active Substance: CLOZAPINE
     Route: 048
     Dates: start: 20201223, end: 20201223
  999. CLOZARIL [Suspect]
     Active Substance: CLOZAPINE
     Route: 048
     Dates: start: 20200521
  1000. CLOZARIL [Suspect]
     Active Substance: CLOZAPINE
     Route: 048
     Dates: start: 20191209, end: 20191223
  1001. CLOZARIL [Suspect]
     Active Substance: CLOZAPINE
     Route: 048
     Dates: end: 20200521
  1002. CLOZARIL [Suspect]
     Active Substance: CLOZAPINE
  1003. CLOZARIL [Suspect]
     Active Substance: CLOZAPINE
  1004. CLOZARIL [Suspect]
     Active Substance: CLOZAPINE
     Dates: start: 20191209, end: 20191223
  1005. CLOZARIL [Suspect]
     Active Substance: CLOZAPINE
     Dates: start: 20200521
  1006. CLOZARIL [Suspect]
     Active Substance: CLOZAPINE
     Route: 048
     Dates: start: 20191209, end: 20191223
  1007. CLOZARIL [Suspect]
     Active Substance: CLOZAPINE
     Route: 048
     Dates: start: 20100823
  1008. CLOZARIL [Suspect]
     Active Substance: CLOZAPINE
     Route: 048
     Dates: start: 20200207
  1009. CLOZARIL [Suspect]
     Active Substance: CLOZAPINE
     Route: 048
     Dates: start: 20191209, end: 20191223
  1010. CLOZARIL [Suspect]
     Active Substance: CLOZAPINE
  1011. CLOZARIL [Suspect]
     Active Substance: CLOZAPINE
  1012. CLOZARIL [Suspect]
     Active Substance: CLOZAPINE
     Dates: start: 20200521
  1013. CLOZARIL [Suspect]
     Active Substance: CLOZAPINE
     Route: 048
     Dates: start: 20191207
  1014. CLOZARIL [Suspect]
     Active Substance: CLOZAPINE
     Dates: start: 20100823, end: 20100823
  1015. CLOZARIL [Suspect]
     Active Substance: CLOZAPINE
  1016. CLOZARIL [Suspect]
     Active Substance: CLOZAPINE
  1017. CLOZARIL [Suspect]
     Active Substance: CLOZAPINE
     Dates: start: 20201207
  1018. CLOZARIL [Suspect]
     Active Substance: CLOZAPINE
     Route: 048
     Dates: start: 20201207
  1019. CLOZARIL [Suspect]
     Active Substance: CLOZAPINE
     Route: 048
     Dates: start: 20200521, end: 20200521
  1020. CLOZARIL [Suspect]
     Active Substance: CLOZAPINE
     Route: 048
     Dates: start: 2011
  1021. CLOZARIL [Suspect]
     Active Substance: CLOZAPINE
     Route: 048
     Dates: start: 20191223, end: 20191223
  1022. CLOZARIL [Suspect]
     Active Substance: CLOZAPINE
     Route: 048
     Dates: start: 20190823, end: 20190823
  1023. CLOZARIL [Suspect]
     Active Substance: CLOZAPINE
     Dates: start: 20201207
  1024. CLOZARIL [Suspect]
     Active Substance: CLOZAPINE
     Route: 048
     Dates: start: 20191223, end: 20191223
  1025. CLOZARIL [Suspect]
     Active Substance: CLOZAPINE
     Route: 048
     Dates: start: 20191209, end: 20191223
  1026. CLOZARIL [Suspect]
     Active Substance: CLOZAPINE
     Dates: start: 20201207
  1027. CLOZARIL [Suspect]
     Active Substance: CLOZAPINE
     Route: 048
     Dates: start: 20201209, end: 20201223
  1028. CLOZARIL [Suspect]
     Active Substance: CLOZAPINE
     Route: 048
     Dates: start: 20190809, end: 20190823
  1029. CLOZARIL [Suspect]
     Active Substance: CLOZAPINE
     Route: 048
     Dates: start: 20191207
  1030. CLOZARIL [Suspect]
     Active Substance: CLOZAPINE
     Route: 048
     Dates: start: 2011
  1031. CLOZARIL [Suspect]
     Active Substance: CLOZAPINE
     Dates: start: 20220719
  1032. CLOZARIL [Suspect]
     Active Substance: CLOZAPINE
     Route: 048
     Dates: start: 2011
  1033. CLOZARIL [Suspect]
     Active Substance: CLOZAPINE
     Route: 048
     Dates: start: 20190823, end: 20190823
  1034. CLOZARIL [Suspect]
     Active Substance: CLOZAPINE
     Route: 048
     Dates: start: 20191209, end: 20191223
  1035. CLOZARIL [Suspect]
     Active Substance: CLOZAPINE
  1036. CLOZARIL [Suspect]
     Active Substance: CLOZAPINE
  1037. CLOZARIL [Suspect]
     Active Substance: CLOZAPINE
  1038. CLOZARIL [Suspect]
     Active Substance: CLOZAPINE
  1039. CLOZARIL [Suspect]
     Active Substance: CLOZAPINE
  1040. CLOZARIL [Suspect]
     Active Substance: CLOZAPINE
  1041. CLOZARIL [Suspect]
     Active Substance: CLOZAPINE
  1042. CLOZARIL [Suspect]
     Active Substance: CLOZAPINE
  1043. CLOZARIL [Suspect]
     Active Substance: CLOZAPINE
  1044. DOCETAXEL [Suspect]
     Active Substance: DOCETAXEL
     Indication: Breast cancer metastatic
     Dates: start: 20151222
  1045. DOCETAXEL [Suspect]
     Active Substance: DOCETAXEL
     Dosage: 110 MILLIGRAM, Q3W (CUMULATIVE DOSE: 324.98)/30-SEP-2015
     Route: 042
     Dates: start: 20150930, end: 20151021
  1046. DOCETAXEL [Suspect]
     Active Substance: DOCETAXEL
     Dosage: 110 MILLIGRAM, Q3WK (ADDITIONAL INFORMATION ON DRUG (FREE TEXT): CLOZARIL, ADDITIONAL INFO: OFF LABE
     Route: 042
     Dates: start: 20150930, end: 20151021
  1047. DOCETAXEL [Suspect]
     Active Substance: DOCETAXEL
     Dates: start: 20150930, end: 20151021
  1048. DOCETAXEL [Suspect]
     Active Substance: DOCETAXEL
  1049. DOCETAXEL [Suspect]
     Active Substance: DOCETAXEL
     Dates: start: 20151222
  1050. DOCETAXEL [Suspect]
     Active Substance: DOCETAXEL
     Dates: start: 20151222
  1051. DOCETAXEL [Suspect]
     Active Substance: DOCETAXEL
     Dates: start: 20151222
  1052. DOCETAXEL [Suspect]
     Active Substance: DOCETAXEL
  1053. DOCETAXEL [Suspect]
     Active Substance: DOCETAXEL
     Dates: start: 20151222
  1054. DOCETAXEL [Suspect]
     Active Substance: DOCETAXEL
     Dates: start: 20150930, end: 20151021
  1055. DOCETAXEL [Suspect]
     Active Substance: DOCETAXEL
     Dates: start: 20150930, end: 20151021
  1056. DOCETAXEL [Suspect]
     Active Substance: DOCETAXEL
  1057. DOCETAXEL [Suspect]
     Active Substance: DOCETAXEL
     Dates: start: 20150930, end: 20151021
  1058. DOCETAXEL [Suspect]
     Active Substance: DOCETAXEL
  1059. DOCETAXEL [Suspect]
     Active Substance: DOCETAXEL
  1060. DOCETAXEL [Suspect]
     Active Substance: DOCETAXEL
  1061. DOCETAXEL [Suspect]
     Active Substance: DOCETAXEL
  1062. DOCETAXEL [Suspect]
     Active Substance: DOCETAXEL
  1063. DOCETAXEL [Suspect]
     Active Substance: DOCETAXEL
     Route: 065
  1064. DOCETAXEL [Suspect]
     Active Substance: DOCETAXEL
     Route: 065
  1065. DOCETAXEL [Suspect]
     Active Substance: DOCETAXEL
  1066. DOCETAXEL [Suspect]
     Active Substance: DOCETAXEL
  1067. DOCETAXEL [Suspect]
     Active Substance: DOCETAXEL
  1068. DOCETAXEL [Suspect]
     Active Substance: DOCETAXEL
  1069. DOCETAXEL [Suspect]
     Active Substance: DOCETAXEL
     Indication: Breast cancer metastatic
  1070. DOCETAXEL [Suspect]
     Active Substance: DOCETAXEL
  1071. DOCETAXEL [Suspect]
     Active Substance: DOCETAXEL
     Dates: start: 20151222
  1072. DOCETAXEL [Suspect]
     Active Substance: DOCETAXEL
     Dosage: 110 MG Q3W (CUMULATIVE DOSE: 324.98)
     Dates: start: 20150930, end: 20151021
  1073. DOCETAXEL [Suspect]
     Active Substance: DOCETAXEL
     Dates: start: 20151222
  1074. DOCETAXEL [Suspect]
     Active Substance: DOCETAXEL
     Dates: start: 20150930, end: 20151021
  1075. DOCETAXEL [Suspect]
     Active Substance: DOCETAXEL
     Dates: start: 20150930, end: 20151021
  1076. DOCETAXEL [Suspect]
     Active Substance: DOCETAXEL
  1077. DOCETAXEL [Suspect]
     Active Substance: DOCETAXEL
  1078. DOCETAXEL [Suspect]
     Active Substance: DOCETAXEL
  1079. DOCETAXEL [Suspect]
     Active Substance: DOCETAXEL
  1080. DOCETAXEL [Suspect]
     Active Substance: DOCETAXEL
  1081. DOCETAXEL [Suspect]
     Active Substance: DOCETAXEL
  1082. DOCETAXEL [Suspect]
     Active Substance: DOCETAXEL
     Route: 050
  1083. DOCETAXEL [Suspect]
     Active Substance: DOCETAXEL
     Route: 050
  1084. DOCETAXEL [Suspect]
     Active Substance: DOCETAXEL
  1085. DOCETAXEL [Suspect]
     Active Substance: DOCETAXEL
  1086. DOCETAXEL [Suspect]
     Active Substance: DOCETAXEL
  1087. DOCETAXEL [Suspect]
     Active Substance: DOCETAXEL
  1088. RISPERDAL [Suspect]
     Active Substance: RISPERIDONE
     Route: 048
  1089. RISPERDAL [Suspect]
     Active Substance: RISPERIDONE
  1090. RISPERDAL [Suspect]
     Active Substance: RISPERIDONE
     Route: 048
  1091. RISPERDAL [Suspect]
     Active Substance: RISPERIDONE
     Route: 048
  1092. RISPERDAL [Suspect]
     Active Substance: RISPERIDONE
     Route: 048
  1093. RISPERDAL [Suspect]
     Active Substance: RISPERIDONE
     Route: 048
  1094. RISPERDAL [Suspect]
     Active Substance: RISPERIDONE
  1095. RISPERDAL [Suspect]
     Active Substance: RISPERIDONE
     Route: 048
  1096. RISPERDAL [Suspect]
     Active Substance: RISPERIDONE
     Route: 048
  1097. RISPERDAL [Suspect]
     Active Substance: RISPERIDONE
  1098. RISPERDAL [Suspect]
     Active Substance: RISPERIDONE
  1099. RISPERDAL [Suspect]
     Active Substance: RISPERIDONE
     Route: 048
  1100. RISPERDAL [Suspect]
     Active Substance: RISPERIDONE
  1101. RISPERDAL [Suspect]
     Active Substance: RISPERIDONE
  1102. RISPERDAL [Suspect]
     Active Substance: RISPERIDONE
  1103. RISPERDAL [Suspect]
     Active Substance: RISPERIDONE
  1104. RISPERDAL [Suspect]
     Active Substance: RISPERIDONE
  1105. RISPERDAL [Suspect]
     Active Substance: RISPERIDONE
  1106. RISPERDAL [Suspect]
     Active Substance: RISPERIDONE
  1107. RISPERDAL [Suspect]
     Active Substance: RISPERIDONE
  1108. RISPERDAL [Suspect]
     Active Substance: RISPERIDONE
  1109. RISPERDAL [Suspect]
     Active Substance: RISPERIDONE
  1110. RISPERDAL [Suspect]
     Active Substance: RISPERIDONE
     Route: 048
  1111. RISPERDAL [Suspect]
     Active Substance: RISPERIDONE
  1112. RISPERDAL [Suspect]
     Active Substance: RISPERIDONE
     Route: 048
  1113. RISPERDAL [Suspect]
     Active Substance: RISPERIDONE
     Route: 048
  1114. RISPERDAL [Suspect]
     Active Substance: RISPERIDONE
     Route: 048
  1115. RISPERDAL [Suspect]
     Active Substance: RISPERIDONE
     Route: 048
  1116. RISPERDAL [Suspect]
     Active Substance: RISPERIDONE
     Route: 048
  1117. RISPERDAL [Suspect]
     Active Substance: RISPERIDONE
  1118. RISPERDAL [Suspect]
     Active Substance: RISPERIDONE
     Route: 048
  1119. RISPERDAL [Suspect]
     Active Substance: RISPERIDONE
     Route: 048
  1120. RISPERDAL [Suspect]
     Active Substance: RISPERIDONE
     Route: 048
  1121. RISPERDAL [Suspect]
     Active Substance: RISPERIDONE
     Route: 048
  1122. RISPERDAL [Suspect]
     Active Substance: RISPERIDONE
  1123. RISPERDAL [Suspect]
     Active Substance: RISPERIDONE
     Route: 048
  1124. RISPERDAL [Suspect]
     Active Substance: RISPERIDONE
     Route: 048
  1125. RISPERDAL [Suspect]
     Active Substance: RISPERIDONE
  1126. RISPERDAL [Suspect]
     Active Substance: RISPERIDONE
  1127. RISPERDAL [Suspect]
     Active Substance: RISPERIDONE
     Route: 048
  1128. RISPERDAL [Suspect]
     Active Substance: RISPERIDONE
  1129. RISPERDAL [Suspect]
     Active Substance: RISPERIDONE
  1130. RISPERDAL [Suspect]
     Active Substance: RISPERIDONE
  1131. RISPERDAL [Suspect]
     Active Substance: RISPERIDONE
  1132. RISPERDAL [Suspect]
     Active Substance: RISPERIDONE
  1133. RISPERDAL [Suspect]
     Active Substance: RISPERIDONE
  1134. RISPERDAL [Suspect]
     Active Substance: RISPERIDONE
  1135. RISPERDAL [Suspect]
     Active Substance: RISPERIDONE
  1136. RISPERDAL [Suspect]
     Active Substance: RISPERIDONE
  1137. RISPERDAL [Suspect]
     Active Substance: RISPERIDONE
  1138. RISPERDAL [Suspect]
     Active Substance: RISPERIDONE
     Route: 048
  1139. RISPERDAL [Suspect]
     Active Substance: RISPERIDONE
  1140. RISPERDAL [Suspect]
     Active Substance: RISPERIDONE
     Route: 048
  1141. RISPERDAL [Suspect]
     Active Substance: RISPERIDONE
     Route: 048
  1142. RISPERDAL [Suspect]
     Active Substance: RISPERIDONE
     Route: 048
  1143. RISPERDAL [Suspect]
     Active Substance: RISPERIDONE
     Route: 048
  1144. RISPERDAL [Suspect]
     Active Substance: RISPERIDONE
     Dosage: 3 MILLIGRAM, Q12H
     Route: 048
  1145. RISPERDAL [Suspect]
     Active Substance: RISPERIDONE
     Dosage: 1 GRAM, QD
     Route: 048
  1146. RISPERDAL [Suspect]
     Active Substance: RISPERIDONE
     Dosage: 3 MILLIGRAM, QD
     Route: 048
  1147. RISPERDAL [Suspect]
     Active Substance: RISPERIDONE
     Dosage: 4 MILLIGRAM, QD
  1148. RISPERDAL [Suspect]
     Active Substance: RISPERIDONE
     Dosage: 1 MILLIGRAM, QD
     Route: 048
  1149. RISPERDAL [Suspect]
     Active Substance: RISPERIDONE
     Dosage: 6 MILLIGRAM, QD
  1150. RISPERDAL [Suspect]
     Active Substance: RISPERIDONE
     Dosage: 6 MILLIGRAM, QD
  1151. RISPERDAL [Suspect]
     Active Substance: RISPERIDONE
  1152. RISPERDAL [Suspect]
     Active Substance: RISPERIDONE
     Dosage: 3 MILLIGRAM, QD
     Route: 048
  1153. RISPERDAL [Suspect]
     Active Substance: RISPERIDONE
     Route: 048
  1154. RISPERDAL [Suspect]
     Active Substance: RISPERIDONE
     Dosage: 2 MG, BID
     Route: 048
  1155. RISPERDAL [Suspect]
     Active Substance: RISPERIDONE
     Dosage: 6 MILLIGRAM, QD
     Route: 048
  1156. RISPERDAL [Suspect]
     Active Substance: RISPERIDONE
     Dosage: 1 GRAM, QD
     Route: 048
  1157. RISPERDAL [Suspect]
     Active Substance: RISPERIDONE
     Dosage: 2 MILLIGRAM, QD
     Route: 048
  1158. RISPERDAL [Suspect]
     Active Substance: RISPERIDONE
     Dosage: 4 MILLIGRAM, QD
     Route: 048
  1159. RISPERDAL [Suspect]
     Active Substance: RISPERIDONE
     Dosage: 3 MILLIGRAM, Q12H
     Route: 048
  1160. RISPERDAL [Suspect]
     Active Substance: RISPERIDONE
     Dosage: 1 MILLIGRAM
     Route: 048
  1161. RISPERDAL [Suspect]
     Active Substance: RISPERIDONE
     Dosage: 2 MILLIGRAM, Q12H
     Route: 048
  1162. RISPERDAL [Suspect]
     Active Substance: RISPERIDONE
     Dosage: 4 MILLIGRAM, BID
     Route: 048
  1163. RISPERDAL [Suspect]
     Active Substance: RISPERIDONE
     Route: 048
  1164. RISPERDAL [Suspect]
     Active Substance: RISPERIDONE
     Route: 048
  1165. RISPERDAL [Suspect]
     Active Substance: RISPERIDONE
  1166. RISPERDAL [Suspect]
     Active Substance: RISPERIDONE
     Route: 048
  1167. RISPERDAL [Suspect]
     Active Substance: RISPERIDONE
     Route: 048
  1168. RISPERDAL [Suspect]
     Active Substance: RISPERIDONE
     Route: 048
  1169. RISPERDAL [Suspect]
     Active Substance: RISPERIDONE
     Route: 048
  1170. RISPERDAL [Suspect]
     Active Substance: RISPERIDONE
  1171. RISPERDAL [Suspect]
     Active Substance: RISPERIDONE
     Route: 048
  1172. RISPERDAL [Suspect]
     Active Substance: RISPERIDONE
     Route: 048
  1173. RISPERDAL [Suspect]
     Active Substance: RISPERIDONE
  1174. RISPERDAL [Suspect]
     Active Substance: RISPERIDONE
  1175. RISPERDAL [Suspect]
     Active Substance: RISPERIDONE
     Route: 048
  1176. RISPERDAL [Suspect]
     Active Substance: RISPERIDONE
  1177. RISPERDAL [Suspect]
     Active Substance: RISPERIDONE
  1178. RISPERDAL [Suspect]
     Active Substance: RISPERIDONE
  1179. RISPERDAL [Suspect]
     Active Substance: RISPERIDONE
  1180. RISPERDAL [Suspect]
     Active Substance: RISPERIDONE
  1181. RISPERDAL [Suspect]
     Active Substance: RISPERIDONE
  1182. RISPERDAL [Suspect]
     Active Substance: RISPERIDONE
  1183. RISPERDAL [Suspect]
     Active Substance: RISPERIDONE
  1184. RISPERDAL [Suspect]
     Active Substance: RISPERIDONE
  1185. RISPERDAL [Suspect]
     Active Substance: RISPERIDONE
  1186. RISPERDAL [Suspect]
     Active Substance: RISPERIDONE
     Route: 048
  1187. RISPERDAL [Suspect]
     Active Substance: RISPERIDONE
  1188. RISPERDAL [Suspect]
     Active Substance: RISPERIDONE
     Route: 048
  1189. RISPERDAL [Suspect]
     Active Substance: RISPERIDONE
     Route: 048
  1190. RISPERDAL [Suspect]
     Active Substance: RISPERIDONE
     Route: 048
  1191. RISPERDAL [Suspect]
     Active Substance: RISPERIDONE
     Route: 048
  1192. ZUCLOPENTHIXOL [Suspect]
     Active Substance: ZUCLOPENTHIXOL
     Indication: Product used for unknown indication
     Dosage: 300 MG, QW/ 300 MILLIGRAM, QWK (ADDITIONAL INFORMATION ON DRUG (FREE TEXT): CLOZARIL, ADDITIONAL INF
     Route: 048
     Dates: start: 20091018
  1193. ZUCLOPENTHIXOL [Suspect]
     Active Substance: ZUCLOPENTHIXOL
     Dosage: 300 MG, QW
  1194. ZUCLOPENTHIXOL [Suspect]
     Active Substance: ZUCLOPENTHIXOL
     Dosage: 800 MG, QW/ 800 MILLIGRAM, QWK (ADDITIONAL INFORMATION ON DRUG (FREE TEXT): CLOZARIL, ADDITIONAL INF
     Route: 048
     Dates: start: 20030204, end: 20040217
  1195. ZUCLOPENTHIXOL [Suspect]
     Active Substance: ZUCLOPENTHIXOL
     Dosage: 800 MG, QW
     Dates: start: 20041018
  1196. ZUCLOPENTHIXOL [Suspect]
     Active Substance: ZUCLOPENTHIXOL
     Dates: start: 20091009
  1197. ZUCLOPENTHIXOL [Suspect]
     Active Substance: ZUCLOPENTHIXOL
     Dosage: 400 MILLIGRAM, QWK (ADDITIONAL INFO: OFF LABEL USE) (ADDITIONAL INFORMATION ON DRUG (FREE TEXT): CLO
     Route: 048
     Dates: start: 20040217, end: 20040601
  1198. ZUCLOPENTHIXOL [Suspect]
     Active Substance: ZUCLOPENTHIXOL
     Dosage: 400 MILLIGRAM, CYCLICAL, (400 MG, BIWEEKLY) (ADDITIONAL INFORMATION ON DRUG (FREE TEXT): CLOZARIL, A
     Route: 048
     Dates: start: 20040217, end: 20040601
  1199. ZUCLOPENTHIXOL [Suspect]
     Active Substance: ZUCLOPENTHIXOL
     Dosage: 300 MG, QW
  1200. ZUCLOPENTHIXOL [Suspect]
     Active Substance: ZUCLOPENTHIXOL
     Route: 048
     Dates: start: 20040217, end: 20040601
  1201. ZUCLOPENTHIXOL [Suspect]
     Active Substance: ZUCLOPENTHIXOL
     Dosage: 300 MG, QW
  1202. OLANZAPINE [Suspect]
     Active Substance: OLANZAPINE
     Indication: Schizophrenia
     Route: 048
     Dates: start: 20040217
  1203. OLANZAPINE [Suspect]
     Active Substance: OLANZAPINE
     Indication: Schizophrenia
     Route: 048
  1204. OLANZAPINE [Suspect]
     Active Substance: OLANZAPINE
     Route: 048
     Dates: start: 20060704
  1205. OLANZAPINE [Suspect]
     Active Substance: OLANZAPINE
     Dosage: 2.5 MILLIGRAM, QD (ADDITIONAL INFORMATION ON DRUG (FREE TEXT): CLOZARIL, ADDITIONAL INFO: OFF LABEL
     Route: 048
     Dates: start: 20080823
  1206. OLANZAPINE [Suspect]
     Active Substance: OLANZAPINE
     Route: 048
     Dates: start: 20040217
  1207. OLANZAPINE [Suspect]
     Active Substance: OLANZAPINE
     Route: 048
  1208. OLANZAPINE [Suspect]
     Active Substance: OLANZAPINE
     Route: 048
  1209. OLANZAPINE [Suspect]
     Active Substance: OLANZAPINE
     Route: 048
  1210. OLANZAPINE [Suspect]
     Active Substance: OLANZAPINE
  1211. OLANZAPINE [Suspect]
     Active Substance: OLANZAPINE
     Route: 048
  1212. OLANZAPINE [Suspect]
     Active Substance: OLANZAPINE
     Route: 048
  1213. OLANZAPINE [Suspect]
     Active Substance: OLANZAPINE
     Route: 048
  1214. OLANZAPINE [Suspect]
     Active Substance: OLANZAPINE
     Route: 048
  1215. OLANZAPINE [Suspect]
     Active Substance: OLANZAPINE
  1216. OLANZAPINE [Suspect]
     Active Substance: OLANZAPINE
     Route: 048
  1217. OLANZAPINE [Suspect]
     Active Substance: OLANZAPINE
     Route: 048
     Dates: start: 20240217
  1218. OLANZAPINE [Suspect]
     Active Substance: OLANZAPINE
     Route: 048
  1219. OLANZAPINE [Suspect]
     Active Substance: OLANZAPINE
     Route: 048
  1220. OLANZAPINE [Suspect]
     Active Substance: OLANZAPINE
     Route: 048
  1221. OLANZAPINE [Suspect]
     Active Substance: OLANZAPINE
     Route: 048
  1222. OLANZAPINE [Suspect]
     Active Substance: OLANZAPINE
     Route: 048
  1223. OLANZAPINE [Suspect]
     Active Substance: OLANZAPINE
     Route: 048
  1224. OLANZAPINE [Suspect]
     Active Substance: OLANZAPINE
     Route: 048
  1225. OLANZAPINE [Suspect]
     Active Substance: OLANZAPINE
     Route: 048
  1226. OLANZAPINE [Suspect]
     Active Substance: OLANZAPINE
     Route: 048
  1227. OLANZAPINE [Suspect]
     Active Substance: OLANZAPINE
     Route: 048
  1228. OLANZAPINE [Suspect]
     Active Substance: OLANZAPINE
     Route: 048
  1229. OLANZAPINE [Suspect]
     Active Substance: OLANZAPINE
  1230. XGEVA [Suspect]
     Active Substance: DENOSUMAB
     Indication: Gastrooesophageal reflux disease
     Dosage: 120 MILLIGRAM, QD
     Route: 058
     Dates: start: 20150930
  1231. XGEVA [Suspect]
     Active Substance: DENOSUMAB
     Indication: Metastases to bone
     Route: 058
  1232. XGEVA [Suspect]
     Active Substance: DENOSUMAB
     Indication: Gastrooesophageal reflux disease
     Dosage: 120 MILLIGRAM, QD
     Route: 065
  1233. LITHIUM [Suspect]
     Active Substance: LITHIUM
     Indication: Schizophrenia
     Dosage: 6 MILLIGRAM, QD
     Route: 048
  1234. LITHIUM [Suspect]
     Active Substance: LITHIUM
     Route: 048
  1235. LITHIUM [Suspect]
     Active Substance: LITHIUM
     Route: 048
  1236. LITHIUM [Suspect]
     Active Substance: LITHIUM
     Route: 050
  1237. LITHIUM [Suspect]
     Active Substance: LITHIUM
     Dosage: 2 GRAM, QD
     Route: 050
  1238. LITHIUM [Suspect]
     Active Substance: LITHIUM
     Dosage: 220 MILLIGRAM, QD
     Route: 050
  1239. LITHIUM [Suspect]
     Active Substance: LITHIUM
     Route: 048
  1240. LITHIUM [Suspect]
     Active Substance: LITHIUM
     Route: 048
  1241. LITHIUM [Suspect]
     Active Substance: LITHIUM
     Dosage: 6 MILLIGRAM, QD
     Route: 048
  1242. LITHIUM [Suspect]
     Active Substance: LITHIUM
     Route: 048
  1243. ZUCLOPENTHIXOL [Suspect]
     Active Substance: ZUCLOPENTHIXOL
     Indication: Schizophrenia
     Route: 030
     Dates: start: 20030204, end: 20041018
  1244. ZUCLOPENTHIXOL [Suspect]
     Active Substance: ZUCLOPENTHIXOL
     Indication: Off label use
     Route: 030
     Dates: start: 20030204, end: 20040217
  1245. ZUCLOPENTHIXOL [Suspect]
     Active Substance: ZUCLOPENTHIXOL
     Dosage: 800 MILLIGRAM, QWK
     Route: 030
     Dates: end: 20040217
  1246. ZUCLOPENTHIXOL [Suspect]
     Active Substance: ZUCLOPENTHIXOL
     Dosage: 400 MG, WEEKLY (1/W)
     Route: 030
     Dates: start: 20040217, end: 20040601
  1247. ZUCLOPENTHIXOL [Suspect]
     Active Substance: ZUCLOPENTHIXOL
     Route: 030
     Dates: start: 20030204, end: 20040217
  1248. ZUCLOPENTHIXOL [Suspect]
     Active Substance: ZUCLOPENTHIXOL
     Route: 030
     Dates: start: 20040217, end: 20040601
  1249. ZUCLOPENTHIXOL [Suspect]
     Active Substance: ZUCLOPENTHIXOL
     Dosage: 400 MILLIGRAM, Q2WK
     Route: 030
     Dates: start: 20040601, end: 20041018
  1250. ZUCLOPENTHIXOL [Suspect]
     Active Substance: ZUCLOPENTHIXOL
     Dosage: 400 MILLIGRAM, QWK
     Route: 030
     Dates: start: 20041018, end: 20041018
  1251. ZUCLOPENTHIXOL [Suspect]
     Active Substance: ZUCLOPENTHIXOL
     Dosage: 300 MILLIGRAM, QWK
     Route: 030
     Dates: start: 20091009, end: 20091018
  1252. ZUCLOPENTHIXOL [Suspect]
     Active Substance: ZUCLOPENTHIXOL
     Dosage: 300 MILLIGRAM, QWK
     Route: 030
     Dates: start: 20091018
  1253. ZUCLOPENTHIXOL [Suspect]
     Active Substance: ZUCLOPENTHIXOL
     Dosage: 300 MILLIGRAM, QWK
     Route: 030
     Dates: start: 20091009
  1254. ZUCLOPENTHIXOL [Suspect]
     Active Substance: ZUCLOPENTHIXOL
     Route: 030
     Dates: end: 20040601
  1255. ZUCLOPENTHIXOL [Suspect]
     Active Substance: ZUCLOPENTHIXOL
     Route: 030
     Dates: start: 20041018
  1256. ZUCLOPENTHIXOL [Suspect]
     Active Substance: ZUCLOPENTHIXOL
     Route: 030
  1257. PERTUZUMAB [Suspect]
     Active Substance: PERTUZUMAB
     Indication: Breast cancer metastatic
     Dosage: 420 MILLIGRAM, Q3W
     Route: 042
     Dates: start: 20151021
  1258. PERTUZUMAB [Suspect]
     Active Substance: PERTUZUMAB
     Dosage: 840 MG, Q3W (CUMULATIVE DOSE: 2481.6667 MG
     Route: 042
     Dates: start: 20150930
  1259. PERTUZUMAB [Suspect]
     Active Substance: PERTUZUMAB
     Route: 050
  1260. PERTUZUMAB [Suspect]
     Active Substance: PERTUZUMAB
     Dosage: 2IU, QWK
     Route: 042
  1261. PERTUZUMAB [Suspect]
     Active Substance: PERTUZUMAB
     Dosage: 840 MILLIGRAM, Q3WK
     Dates: start: 20151021
  1262. PERTUZUMAB [Suspect]
     Active Substance: PERTUZUMAB
     Dosage: 2 U, WEEKLY (1/W)
     Route: 042
  1263. PERTUZUMAB [Suspect]
     Active Substance: PERTUZUMAB
     Dosage: UNK, QWK
     Route: 065
  1264. PACLITAXEL [Suspect]
     Active Substance: PACLITAXEL
     Indication: Breast cancer metastatic
     Dosage: 120 MILLIGRAM, QWK
     Route: 065
     Dates: start: 20151111, end: 20151222
  1265. PACLITAXEL [Suspect]
     Active Substance: PACLITAXEL
     Dosage: 150 MG, QW (CUMULATIVE DOSE: 428.57 MG
     Route: 042
     Dates: start: 20151111, end: 20151222
  1266. PACLITAXEL [Suspect]
     Active Substance: PACLITAXEL
     Dosage: 120 MILLIGRAM
     Route: 042
     Dates: start: 20151223, end: 20151223
  1267. CALCIUM\CHOLECALCIFEROL [Concomitant]
     Active Substance: CALCIUM\CHOLECALCIFEROL
     Indication: Product used for unknown indication
     Dosage: 2 DOSAGE FORM, QD (DOSE FORM: 245); ADDITIONAL INFO: OFF LABEL USE) (CUMULATIVE DOSE TO FIRST REACTI
     Dates: start: 20091018
  1268. CALCIUM\CHOLECALCIFEROL [Concomitant]
     Active Substance: CALCIUM\CHOLECALCIFEROL
     Dosage: 2 DOSAGE FORM, QD
     Route: 048
  1269. MORPHINE SULFATE [Concomitant]
     Active Substance: MORPHINE SULFATE
     Indication: Product used for unknown indication
     Dates: start: 201509
  1270. MORPHINE SULFATE [Concomitant]
     Active Substance: MORPHINE SULFATE
     Indication: Product used for unknown indication
     Dosage: 10 MG, 1/WEEK
  1271. MORPHINE SULFATE [Concomitant]
     Active Substance: MORPHINE SULFATE
     Dosage: 10 MG, 1/WEEK
  1272. MORPHINE SULFATE [Concomitant]
     Active Substance: MORPHINE SULFATE
     Dosage: 10 MG, 1/WEEK
  1273. MIRTAZAPINE [Concomitant]
     Active Substance: MIRTAZAPINE
     Indication: Product used for unknown indication
     Dosage: 15 MG, QD (ADDITIONAL INFORMATION ON DRUG (FREE TEXT): CLOZARIL, ADDITIONAL INFO: OFF LABEL USE)
     Route: 048
     Dates: start: 201510
  1274. MIRTAZAPINE [Concomitant]
     Active Substance: MIRTAZAPINE
     Indication: Product used for unknown indication
  1275. MORPHINE [Concomitant]
     Active Substance: MORPHINE
     Indication: Pain
     Dosage: 60 MILLIGRAM, QD (ADDITIONAL INFORMATION ON DRUG (FREE TEXT): CLOZARIL, ADDITIONAL INFO: OFF LABEL U
     Route: 048
     Dates: start: 201509
  1276. MORPHINE [Concomitant]
     Active Substance: MORPHINE
     Route: 048
  1277. MORPHINE [Concomitant]
     Active Substance: MORPHINE
     Dosage: 15 MG, QD
     Route: 048
     Dates: start: 201510
  1278. MORPHINE [Concomitant]
     Active Substance: MORPHINE
     Dosage: 60 MG, QD (30 MG, BID)
     Dates: start: 201509
  1279. MORPHINE [Concomitant]
     Active Substance: MORPHINE
     Dosage: 30 MG (EVERY 0.5 DAY)
     Dates: start: 201509
  1280. MORPHINE [Concomitant]
     Active Substance: MORPHINE
     Dates: start: 201509
  1281. MORPHINE [Concomitant]
     Active Substance: MORPHINE
     Route: 048
     Dates: start: 201509
  1282. MORPHINE [Concomitant]
     Active Substance: MORPHINE
     Route: 048
     Dates: start: 201509
  1283. MORPHINE [Concomitant]
     Active Substance: MORPHINE
     Route: 048
  1284. MORPHINE [Concomitant]
     Active Substance: MORPHINE
     Route: 048
  1285. MORPHINE [Concomitant]
     Active Substance: MORPHINE
     Route: 048
  1286. DENOSUMAB [Concomitant]
     Active Substance: DENOSUMAB
     Indication: Metastases to bone
     Dosage: 120 MG, EVERY 9 WEEKS/30 SEP 2015120 MG,(CUMULATIVE DOSE: 118.174)
     Route: 058
     Dates: start: 20150930
  1287. DENOSUMAB [Concomitant]
     Active Substance: DENOSUMAB
     Indication: Gastrooesophageal reflux disease
     Dosage: 120 MG OTHER (EVERY 9 WEEKS)
     Route: 065
     Dates: start: 20150930
  1288. DENOSUMAB [Concomitant]
     Active Substance: DENOSUMAB
     Indication: Gastrooesophageal reflux disease
  1289. DULOXETINE [Concomitant]
     Active Substance: DULOXETINE
     Indication: Breast cancer metastatic
     Route: 042
     Dates: start: 20150930, end: 20151021
  1290. DULOXETINE [Concomitant]
     Active Substance: DULOXETINE
     Indication: Product used for unknown indication
  1291. AMOXICILLIN\CLAVULANATE POTASSIUM [Concomitant]
     Active Substance: AMOXICILLIN\CLAVULANATE POTASSIUM
     Indication: Febrile neutropenia
     Dates: start: 20151122, end: 20151125
  1292. AMOXICILLIN\CLAVULANATE POTASSIUM [Concomitant]
     Active Substance: AMOXICILLIN\CLAVULANATE POTASSIUM
     Dates: start: 20151122
  1293. AMOXICILLIN\CLAVULANATE POTASSIUM [Concomitant]
     Active Substance: AMOXICILLIN\CLAVULANATE POTASSIUM
     Dates: start: 20151111
  1294. AMOXICILLIN\CLAVULANATE POTASSIUM [Concomitant]
     Active Substance: AMOXICILLIN\CLAVULANATE POTASSIUM
     Dates: start: 20151122, end: 20151122
  1295. RANITIDINE [Concomitant]
     Active Substance: RANITIDINE
     Indication: Gastrooesophageal reflux disease
     Dosage: 50 MILLIGRAM, QWK
     Route: 058
     Dates: start: 20151111
  1296. RANITIDINE [Concomitant]
     Active Substance: RANITIDINE
     Indication: Gastrooesophageal reflux disease
     Dosage: 150 MILLIGRAM
     Route: 058
     Dates: start: 20151111
  1297. RANITIDINE [Concomitant]
     Active Substance: RANITIDINE
     Route: 058
  1298. RANITIDINE [Concomitant]
     Active Substance: RANITIDINE
     Dosage: 150 MILLIGRAM, QWK
     Route: 065
  1299. RANITIDINE [Concomitant]
     Active Substance: RANITIDINE
     Dosage: 50 MG, WEEKLY (1/W)
     Route: 058
  1300. PREGABALIN [Concomitant]
     Active Substance: PREGABALIN
     Indication: Product used for unknown indication
     Dosage: 150 MILLIGRAM, QD
     Route: 048
     Dates: start: 201509
  1301. PREGABALIN [Concomitant]
     Active Substance: PREGABALIN
     Indication: Product used for unknown indication
     Dosage: 75 MG, BID
     Route: 048
     Dates: start: 201509
  1302. PREGABALIN [Concomitant]
     Active Substance: PREGABALIN
     Dosage: 150 MILLIGRAM, BID
     Dates: start: 201509
  1303. LEVOFLOXACIN [Concomitant]
     Active Substance: LEVOFLOXACIN
     Indication: Febrile neutropenia
     Dosage: 500 MILLIGRAM, QD
     Route: 042
     Dates: start: 20151125
  1304. LEVOFLOXACIN [Concomitant]
     Active Substance: LEVOFLOXACIN
     Dosage: 500 MILLIGRAM, QD
     Route: 042
  1305. GENTAMICIN [Concomitant]
     Active Substance: GENTAMICIN
     Indication: Febrile neutropenia
     Route: 042
     Dates: start: 20151121, end: 201511
  1306. GENTAMICIN [Concomitant]
     Active Substance: GENTAMICIN
     Route: 042
  1307. GENTAMICIN [Concomitant]
     Active Substance: GENTAMICIN
     Route: 042
  1308. CHLORPHENIRAMINE MALEATE [Concomitant]
     Active Substance: CHLORPHENIRAMINE MALEATE
     Indication: Product used for unknown indication
     Dosage: 10 MILLIGRAM, QWK
     Route: 058
     Dates: start: 20151111
  1309. CHLORPHENIRAMINE MALEATE [Concomitant]
     Active Substance: CHLORPHENIRAMINE MALEATE
     Route: 065
  1310. CHOLECALCIFEROL [Concomitant]
     Active Substance: CHOLECALCIFEROL
     Indication: Product used for unknown indication
     Dosage: 2 DOSAGE FORM, QD
     Route: 048
  1311. CHOLECALCIFEROL [Concomitant]
     Active Substance: CHOLECALCIFEROL
     Dosage: 2 DOSAGE FORM, QD
     Route: 048
  1312. AMOXICILLIN\CLAVULANATE POTASSIUM [Concomitant]
     Active Substance: AMOXICILLIN\CLAVULANATE POTASSIUM
     Indication: Febrile neutropenia
     Dosage: 2500 MILLIGRAM
     Dates: start: 20151122
  1313. AMOXICILLIN\CLAVULANATE POTASSIUM [Concomitant]
     Active Substance: AMOXICILLIN\CLAVULANATE POTASSIUM
     Dosage: 625 MG, QID
     Dates: start: 20151111
  1314. AMOXICILLIN\CLAVULANATE POTASSIUM [Concomitant]
     Active Substance: AMOXICILLIN\CLAVULANATE POTASSIUM
     Dosage: 2500 MILLIGRAM
     Dates: start: 20151122, end: 20151125
  1315. AMOXICILLIN\CLAVULANATE POTASSIUM [Concomitant]
     Active Substance: AMOXICILLIN\CLAVULANATE POTASSIUM
     Dates: start: 20151122, end: 20151125
  1316. AMOXICILLIN\CLAVULANATE POTASSIUM [Concomitant]
     Active Substance: AMOXICILLIN\CLAVULANATE POTASSIUM
     Dosage: 625 MG, QID
     Route: 048
     Dates: start: 20151122, end: 20151125
  1317. ACETAMINOPHEN [Concomitant]
     Active Substance: ACETAMINOPHEN
     Indication: Pain
     Dosage: 15 MILLIGRAM, QD
     Dates: start: 201510
  1318. ACETAMINOPHEN [Concomitant]
     Active Substance: ACETAMINOPHEN
     Route: 048
     Dates: start: 20150127
  1319. PIPERACILLIN SODIUM\TAZOBACTAM SODIUM [Concomitant]
     Active Substance: PIPERACILLIN SODIUM\TAZOBACTAM SODIUM
     Indication: Febrile neutropenia
     Route: 065
     Dates: start: 20151121, end: 201511

REACTIONS (44)
  - Alopecia [Fatal]
  - Mucosal inflammation [Fatal]
  - Nausea [Fatal]
  - Fatigue [Fatal]
  - Neuropathy peripheral [Fatal]
  - Diarrhoea [Fatal]
  - Cellulitis [Fatal]
  - Dyspepsia [Fatal]
  - Rhinalgia [Fatal]
  - Intentional product misuse [Fatal]
  - Off label use [Fatal]
  - Off label use [Fatal]
  - Off label use [Fatal]
  - Leukocytosis [Fatal]
  - Leukopenia [Fatal]
  - Platelet count decreased [Fatal]
  - Disease progression [Fatal]
  - Neoplasm progression [Fatal]
  - Fatigue [Fatal]
  - Lymphocyte count abnormal [Fatal]
  - Lymphocyte count abnormal [Fatal]
  - Lymphocyte count decreased [Fatal]
  - Delusion of grandeur [Fatal]
  - Hallucination, auditory [Fatal]
  - Neutropenia [Fatal]
  - Neutrophil count increased [Fatal]
  - Fatigue [Fatal]
  - COVID-19 [Fatal]
  - SARS-CoV-2 test positive [Fatal]
  - Leukocytosis [Fatal]
  - Leukocytosis [Fatal]
  - Thrombocytopenia [Fatal]
  - Overdose [Fatal]
  - Affective disorder [Fatal]
  - Extrapyramidal disorder [Fatal]
  - Extrapyramidal disorder [Fatal]
  - Hospitalisation [Fatal]
  - Neutrophil count decreased [Fatal]
  - Psychotic disorder [Fatal]
  - Schizophrenia [Fatal]
  - Seizure [Fatal]
  - Incorrect dose administered [Fatal]
  - Schizophrenia [Fatal]
  - SARS-CoV-2 test positive [Unknown]

NARRATIVE: CASE EVENT DATE: 20151101
